FAERS Safety Report 24698614 (Version 8)
Quarter: 2025Q4

REPORT INFORMATION
  Report Type: Spontaneous
  Country: CA (occurrence: CA)
  Receive Date: 20241204
  Receipt Date: 20251209
  Transmission Date: 20260117
  Serious: Yes (Other)
  Sender: Haleon PLC
  Company Number: CA-SANDOZ-SDZ2024CA096916

PATIENT
  Sex: Female

DRUGS (678)
  1. DICLOFENAC SODIUM [Suspect]
     Active Substance: DICLOFENAC SODIUM
     Indication: Product used for unknown indication
     Dosage: UNK, ROA: UNKNOWN
  2. DICLOFENAC SODIUM [Suspect]
     Active Substance: DICLOFENAC SODIUM
     Dosage: UNK
  3. DICLOFENAC SODIUM [Suspect]
     Active Substance: DICLOFENAC SODIUM
  4. CODEINE PHOSPHATE [Suspect]
     Active Substance: CODEINE PHOSPHATE
     Indication: Product used for unknown indication
     Dosage: UNK, ROA: UNKNOWN
  5. CODEINE PHOSPHATE [Suspect]
     Active Substance: CODEINE PHOSPHATE
     Dosage: UNK, ROUTE: UNKNOWN
  6. CETIRIZINE [Suspect]
     Active Substance: CETIRIZINE HYDROCHLORIDE
     Indication: Product used for unknown indication
     Dosage: 20 MG, QD, ROA: UNKNOWN
  7. CETIRIZINE [Suspect]
     Active Substance: CETIRIZINE HYDROCHLORIDE
     Dosage: 20 MG, QD, ROA: UNKNOWN
  8. CETIRIZINE [Suspect]
     Active Substance: CETIRIZINE HYDROCHLORIDE
     Dosage: 20 MG, QD, ROA: UNKNOWN
  9. CETIRIZINE [Suspect]
     Active Substance: CETIRIZINE HYDROCHLORIDE
     Dosage: 20 MG, QD, ROA: UNKNOWN
  10. CETIRIZINE [Suspect]
     Active Substance: CETIRIZINE HYDROCHLORIDE
     Dosage: 20 MG, ROA: UNKNOWN
  11. HERBALS\PLANTAGO INDICA WHOLE [Suspect]
     Active Substance: HERBALS\PLANTAGO INDICA WHOLE
     Indication: Product used for unknown indication
     Dosage: UNK, ROA: UNKNOWN
  12. HERBALS\PLANTAGO INDICA WHOLE [Suspect]
     Active Substance: HERBALS\PLANTAGO INDICA WHOLE
     Dosage: UNK
  13. HERBALS\PLANTAGO INDICA WHOLE [Suspect]
     Active Substance: HERBALS\PLANTAGO INDICA WHOLE
     Dosage: UNK
  14. HERBALS\PLANTAGO INDICA WHOLE [Suspect]
     Active Substance: HERBALS\PLANTAGO INDICA WHOLE
  15. VITAMIN C [Suspect]
     Active Substance: ASCORBIC ACID
     Indication: Product used for unknown indication
     Dosage: UNK, ROA: UNKNOWN
  16. VITAMIN C [Suspect]
     Active Substance: ASCORBIC ACID
     Dosage: UNK, ROUTE: UNKNOWN
  17. VITAMIN C [Suspect]
     Active Substance: ASCORBIC ACID
     Dosage: UNK, ROA: UNKNOWN
  18. VITAMIN C [Suspect]
     Active Substance: ASCORBIC ACID
     Dosage: UNK, ROA: UNKNOWN
  19. OXYCODONE AND ACETAMINOPHEN [Suspect]
     Active Substance: ACETAMINOPHEN\OXYCODONE HYDROCHLORIDE
     Indication: Product used for unknown indication
     Dosage: UNK
  20. DIPHENHYDRAMINE HYDROCHLORIDE [Suspect]
     Active Substance: DIPHENHYDRAMINE HYDROCHLORIDE
     Indication: Product used for unknown indication
     Dosage: 75 MG, QD, ROA: UNKNOWN
  21. DIPHENHYDRAMINE HYDROCHLORIDE [Suspect]
     Active Substance: DIPHENHYDRAMINE HYDROCHLORIDE
     Dosage: 75 MG, QD,  ROA: UNKNOWN
  22. DIPHENHYDRAMINE HYDROCHLORIDE [Suspect]
     Active Substance: DIPHENHYDRAMINE HYDROCHLORIDE
     Dosage: 75 MG, QD,  ROA: UNKNOWN
  23. DIPHENHYDRAMINE HYDROCHLORIDE [Suspect]
     Active Substance: DIPHENHYDRAMINE HYDROCHLORIDE
     Dosage: 75 MG, QD,  ROA: UNKNOWN
  24. DIPHENHYDRAMINE HYDROCHLORIDE [Suspect]
     Active Substance: DIPHENHYDRAMINE HYDROCHLORIDE
     Dosage: 75 MG, QD,  ROA: UNKNOWN
  25. DIPHENHYDRAMINE HYDROCHLORIDE [Suspect]
     Active Substance: DIPHENHYDRAMINE HYDROCHLORIDE
     Dosage: 75 MG, QD,  ROA: UNKNOWN
  26. DIPHENHYDRAMINE HYDROCHLORIDE [Suspect]
     Active Substance: DIPHENHYDRAMINE HYDROCHLORIDE
     Dosage: 75 MG,  ROA: UNKNOWN
  27. DIPHENHYDRAMINE HYDROCHLORIDE [Suspect]
     Active Substance: DIPHENHYDRAMINE HYDROCHLORIDE
     Dosage: 75 MG,  ROA: UNKNOWN
  28. DIPHENHYDRAMINE HYDROCHLORIDE [Suspect]
     Active Substance: DIPHENHYDRAMINE HYDROCHLORIDE
  29. DIPHENHYDRAMINE HYDROCHLORIDE [Suspect]
     Active Substance: DIPHENHYDRAMINE HYDROCHLORIDE
  30. DIPHENHYDRAMINE HYDROCHLORIDE [Suspect]
     Active Substance: DIPHENHYDRAMINE HYDROCHLORIDE
  31. DIPHENHYDRAMINE HYDROCHLORIDE [Suspect]
     Active Substance: DIPHENHYDRAMINE HYDROCHLORIDE
  32. DIPHENHYDRAMINE HYDROCHLORIDE [Suspect]
     Active Substance: DIPHENHYDRAMINE HYDROCHLORIDE
  33. DIPHENHYDRAMINE HYDROCHLORIDE [Suspect]
     Active Substance: DIPHENHYDRAMINE HYDROCHLORIDE
  34. DIPHENHYDRAMINE HYDROCHLORIDE [Suspect]
     Active Substance: DIPHENHYDRAMINE HYDROCHLORIDE
  35. DIPHENHYDRAMINE HYDROCHLORIDE [Suspect]
     Active Substance: DIPHENHYDRAMINE HYDROCHLORIDE
  36. ABACAVIR SULFATE\LAMIVUDINE [Suspect]
     Active Substance: ABACAVIR SULFATE\LAMIVUDINE
     Indication: Product used for unknown indication
     Dosage: UNK, ROA: UNKNOWN
  37. ABACAVIR SULFATE\LAMIVUDINE [Suspect]
     Active Substance: ABACAVIR SULFATE\LAMIVUDINE
     Dosage: UNK
  38. ABACAVIR SULFATE\LAMIVUDINE [Suspect]
     Active Substance: ABACAVIR SULFATE\LAMIVUDINE
     Dosage: UNK
  39. FLONASE ALLERGY RELIEF [Suspect]
     Active Substance: FLUTICASONE PROPIONATE
     Indication: Product used for unknown indication
     Dosage: 500 MG, QD, ROA: UNKNOWN
  40. FLONASE ALLERGY RELIEF [Suspect]
     Active Substance: FLUTICASONE PROPIONATE
     Dosage: 50MG 5QD, ROA: UNKNOWN
  41. FLONASE ALLERGY RELIEF [Suspect]
     Active Substance: FLUTICASONE PROPIONATE
     Dosage: 50MG 5QD, ROA: UNKNOWN
  42. FLONASE ALLERGY RELIEF [Suspect]
     Active Substance: FLUTICASONE PROPIONATE
     Dosage: 50MG 5QD, ROA: UNKNOWN
  43. FLONASE ALLERGY RELIEF [Suspect]
     Active Substance: FLUTICASONE PROPIONATE
     Dosage: 500 MG, ROA: UNKNOWN
  44. FLONASE ALLERGY RELIEF [Suspect]
     Active Substance: FLUTICASONE PROPIONATE
     Dosage: 500 MG, ROA: UNKNOWN
  45. FLONASE ALLERGY RELIEF [Suspect]
     Active Substance: FLUTICASONE PROPIONATE
     Dosage: 500 MG, ROA: UNKNOWN
  46. FLONASE ALLERGY RELIEF [Suspect]
     Active Substance: FLUTICASONE PROPIONATE
     Dosage: 500 MG, ROA: UNKNOWN
  47. FLONASE ALLERGY RELIEF [Suspect]
     Active Substance: FLUTICASONE PROPIONATE
     Dosage: 500 MG, QD, ROA: UNKNOWN
  48. FLONASE ALLERGY RELIEF [Suspect]
     Active Substance: FLUTICASONE PROPIONATE
     Dosage: UNK, QD, ROA: UNKNOWN
  49. ABACAVIR SULFATE [Suspect]
     Active Substance: ABACAVIR SULFATE
     Indication: Product used for unknown indication
     Dosage: UNK, ROA: UNKNOWN
  50. ABACAVIR SULFATE [Suspect]
     Active Substance: ABACAVIR SULFATE
     Dosage: UNK
  51. ABACAVIR SULFATE [Suspect]
     Active Substance: ABACAVIR SULFATE
     Dosage: UNK
  52. ACETAMINOPHEN [Suspect]
     Active Substance: ACETAMINOPHEN
     Indication: Product used for unknown indication
     Dosage: UNK, ROA: UNKNOWN
  53. ACETAMINOPHEN [Suspect]
     Active Substance: ACETAMINOPHEN
     Dosage: UNK
  54. ACETAMINOPHEN [Suspect]
     Active Substance: ACETAMINOPHEN
     Dosage: UNK
  55. ALBUTEROL SULFATE [Suspect]
     Active Substance: ALBUTEROL SULFATE
     Indication: Product used for unknown indication
     Dosage: UNK, ROA: UNKNOWN
  56. ALBUTEROL SULFATE [Suspect]
     Active Substance: ALBUTEROL SULFATE
     Dosage: UNK
  57. ALBUTEROL SULFATE [Suspect]
     Active Substance: ALBUTEROL SULFATE
     Dosage: UNK, ROA: UNKNOWN
  58. ALBUTEROL SULFATE [Suspect]
     Active Substance: ALBUTEROL SULFATE
     Dosage: UNK
  59. PANTOPRAZOLE SODIUM ANHYDROUS [Suspect]
     Active Substance: PANTOPRAZOLE SODIUM ANHYDROUS
     Indication: Product used for unknown indication
     Dosage: UNK, ROA: UNKNOWN
  60. ACETAMINOPHEN [Suspect]
     Active Substance: ACETAMINOPHEN
     Indication: Product used for unknown indication
  61. MONTELUKAST SODIUM [Suspect]
     Active Substance: MONTELUKAST SODIUM
     Indication: Product used for unknown indication
     Dosage: UNK, ROA: UNKNOWN
  62. MONTELUKAST SODIUM [Suspect]
     Active Substance: MONTELUKAST SODIUM
     Dosage: UNK
  63. MONTELUKAST SODIUM [Suspect]
     Active Substance: MONTELUKAST SODIUM
     Dosage: UNK
  64. MONTELUKAST SODIUM [Suspect]
     Active Substance: MONTELUKAST SODIUM
  65. MOXIFLOXACIN HYDROCHLORIDE [Suspect]
     Active Substance: MOXIFLOXACIN HYDROCHLORIDE
     Indication: Product used for unknown indication
     Dosage: UNK, ROA: UNKNOWN
  66. MOXIFLOXACIN HYDROCHLORIDE [Suspect]
     Active Substance: MOXIFLOXACIN HYDROCHLORIDE
     Dosage: UNK, ROA: SUBCUTANEOUS USE
  67. MOXIFLOXACIN HYDROCHLORIDE [Suspect]
     Active Substance: MOXIFLOXACIN HYDROCHLORIDE
     Dosage: UNK, ROA: SUBCUTANEOUS
  68. MOXIFLOXACIN HYDROCHLORIDE [Suspect]
     Active Substance: MOXIFLOXACIN HYDROCHLORIDE
     Dosage: UNK
  69. MOXIFLOXACIN HYDROCHLORIDE [Suspect]
     Active Substance: MOXIFLOXACIN HYDROCHLORIDE
     Dosage: UNK
  70. MOXIFLOXACIN HYDROCHLORIDE [Suspect]
     Active Substance: MOXIFLOXACIN HYDROCHLORIDE
  71. MOXIFLOXACIN HYDROCHLORIDE [Suspect]
     Active Substance: MOXIFLOXACIN HYDROCHLORIDE
     Dosage: ROA: SUBCUTANEOUS USE
  72. ONDANSETRON [Suspect]
     Active Substance: ONDANSETRON
     Indication: Product used for unknown indication
     Dosage: UNK, ROA: UNKNOWN
  73. ONDANSETRON [Suspect]
     Active Substance: ONDANSETRON
     Dosage: UNK
  74. ONDANSETRON [Suspect]
     Active Substance: ONDANSETRON
     Dosage: UNK
  75. ONDANSETRON [Suspect]
     Active Substance: ONDANSETRON
  76. PANTOPRAZOLE SODIUM [Suspect]
     Active Substance: PANTOPRAZOLE SODIUM
     Indication: Product used for unknown indication
     Dosage: UNK, ROA: UNKNOWN
  77. PANTOPRAZOLE SODIUM [Suspect]
     Active Substance: PANTOPRAZOLE SODIUM
     Dosage: UNK
  78. PANTOPRAZOLE SODIUM [Suspect]
     Active Substance: PANTOPRAZOLE SODIUM
     Dosage: UNK, ROA: UNKNOWN
  79. PANTOPRAZOLE SODIUM [Suspect]
     Active Substance: PANTOPRAZOLE SODIUM
     Dosage: UNK
  80. PANTOPRAZOLE SODIUM [Suspect]
     Active Substance: PANTOPRAZOLE SODIUM
  81. PANTOPRAZOLE SODIUM [Suspect]
     Active Substance: PANTOPRAZOLE SODIUM
     Dosage: UNK
  82. QUETIAPINE FUMARATE [Suspect]
     Active Substance: QUETIAPINE FUMARATE
     Indication: Product used for unknown indication
     Dosage: UNK, ROA: UNKNOWN
  83. QUETIAPINE FUMARATE [Suspect]
     Active Substance: QUETIAPINE FUMARATE
     Dosage: UNK
  84. QUETIAPINE FUMARATE [Suspect]
     Active Substance: QUETIAPINE FUMARATE
     Dosage: UNK
  85. QUETIAPINE FUMARATE [Suspect]
     Active Substance: QUETIAPINE FUMARATE
  86. FUROSEMIDE [Suspect]
     Active Substance: FUROSEMIDE
     Indication: Product used for unknown indication
     Dosage: UNK, ROA: UNKNOWN
  87. FUROSEMIDE [Suspect]
     Active Substance: FUROSEMIDE
     Dosage: UNK
  88. FUROSEMIDE [Suspect]
     Active Substance: FUROSEMIDE
     Dosage: UNK
  89. FUROSEMIDE [Suspect]
     Active Substance: FUROSEMIDE
  90. VENLAFAXINE HYDROCHLORIDE [Suspect]
     Active Substance: VENLAFAXINE HYDROCHLORIDE
     Indication: Product used for unknown indication
     Dosage: UNK, ROA: UNKNOWN
  91. VENLAFAXINE HYDROCHLORIDE [Suspect]
     Active Substance: VENLAFAXINE HYDROCHLORIDE
     Dosage: UNK
  92. VENLAFAXINE HYDROCHLORIDE [Suspect]
     Active Substance: VENLAFAXINE HYDROCHLORIDE
  93. RITUXIMAB [Suspect]
     Active Substance: RITUXIMAB
     Indication: Rheumatoid arthritis
     Dosage: 1000 MG, QD, DOSE FORM: CONCENTRATE FOR SOLUTION FOR INFUSION; ROA: INTRAVENOUS (NOT OTHERWISE SPECIFIED)
  94. RITUXIMAB [Suspect]
     Active Substance: RITUXIMAB
     Dosage: 1000 MG, DOSE FORM: CONCENTRATE FOR SOLUTION FOR INFUSION; ROA: UNKNOWN
  95. RITUXIMAB [Suspect]
     Active Substance: RITUXIMAB
     Dosage: 1000 MG, QD, DOSE FORM: CONCENTRATE FOR SOLUTION FOR INFUSION; ROA: INTRAVENOUS USE
  96. RITUXIMAB [Suspect]
     Active Substance: RITUXIMAB
     Dosage: 1000 MG, QD, DOSE FORM: CONCENTRATE FOR SOLUTION FOR INFUSION; ROA: INTRAVENOUS (NOT OTHERWISE SPECIFIED)
  97. RITUXIMAB [Suspect]
     Active Substance: RITUXIMAB
     Dosage: 1000 MG, QD, DOSE FORM: CONCENTRATE FOR SOLUTION FOR INFUSION; ROA: INTRAVENOUS (NOT OTHERWISE SPECIFIED)
  98. RITUXIMAB [Suspect]
     Active Substance: RITUXIMAB
     Dosage: 1000 MG, QD, DOSE FORM: CONCENTRATE FOR SOLUTION FOR INFUSION; ROA: INTRAVENOUS USE
  99. RITUXIMAB [Suspect]
     Active Substance: RITUXIMAB
     Dosage: 1000 MG, QD, DOSE FORM: CONCENTRATE FOR SOLUTION FOR INFUSION; ROA: INTRAVENOUS (NOT OTHERWISE SPECIFIED)
  100. RITUXIMAB [Suspect]
     Active Substance: RITUXIMAB
     Dosage: 1000 MG, QD, DOSE FORM: CONCENTRATE FOR SOLUTION FOR INFUSION; ROA: INTRAVENOUS (NOT OTHERWISE SPECIFIED)
  101. RITUXIMAB [Suspect]
     Active Substance: RITUXIMAB
     Dosage: 1000 MG, QD, DOSE FORM: CONCENTRATE FOR SOLUTION FOR INFUSION; ROA: INTRAVENOUS (NOT OTHERWISE SPECIFIED)
  102. RITUXIMAB [Suspect]
     Active Substance: RITUXIMAB
     Dosage: 1000 MG, DOSE FORM: CONCENTRATE FOR SOLUTION FOR INFUSION; ROA: INTRAVENOUS DRIP
  103. RITUXIMAB [Suspect]
     Active Substance: RITUXIMAB
     Dosage: 1000 MG, DOSE FORM: CONCENTRATE FOR SOLUTION FOR INFUSION; ROA: INTRAVENOUS USE
  104. RITUXIMAB [Suspect]
     Active Substance: RITUXIMAB
     Dosage: 1000 MG, DOSE FORM: CONCENTRATE FOR SOLUTION FOR INFUSION, ROA: INTRAVENOUS (NOT OTHERWISE SPECIFIED)
  105. RITUXIMAB [Suspect]
     Active Substance: RITUXIMAB
     Dosage: UNK, MG ROA: INTRAVENOUS; DOSE FORM: CONCENTRATE FOR SOLUTION FOR INFUSION
  106. RITUXIMAB [Suspect]
     Active Substance: RITUXIMAB
     Dosage: UNK, MG, ROA: INTRAVENOUS; DOSE FORM: CONCENTRATE FOR SOLUTION FOR INFUSION
  107. RITUXIMAB [Suspect]
     Active Substance: RITUXIMAB
     Dosage: UNK, MG, DOSE FORM: CONCENTRATE FOR SOLUTION FOR INFUSION ROA: ROA: INTRAVENOUS (NOT OTHERWISE SPECIFIED)
  108. RITUXIMAB [Suspect]
     Active Substance: RITUXIMAB
     Dosage: 1000 MG, ROA: INTRAVENOUS; DOSE FORM: CONCENTRATE FOR SOLUTION FOR INFUSION
  109. RITUXIMAB [Suspect]
     Active Substance: RITUXIMAB
     Dosage: DOSE FORM: SOLUTION FOR INFUSION, ROA: INTRAVENOUS
  110. RITUXIMAB [Suspect]
     Active Substance: RITUXIMAB
     Dosage: 1000 MG, DOSE FORM: CONCENTRATE FOR SOLUTION FOR INFUSION; ROA: UNKNOWN
  111. RITUXIMAB [Suspect]
     Active Substance: RITUXIMAB
     Dosage: 1000 MG, ROA: INTRAVENOUS; DOSE FORM: CONCENTRATE FOR SOLUTION FOR INFUSION
  112. RITUXIMAB [Suspect]
     Active Substance: RITUXIMAB
     Dosage: 1000 MG, ROA: INTRAVENOUS; DOSE FORM: CONCENTRATE FOR SOLUTION FOR INFUSION
  113. MONTELUKAST [Suspect]
     Active Substance: MONTELUKAST
     Indication: Product used for unknown indication
     Dosage: UNK, ROA: UNKNOWN
  114. MONTELUKAST [Suspect]
     Active Substance: MONTELUKAST
     Dosage: UNK
  115. MONTELUKAST [Suspect]
     Active Substance: MONTELUKAST
  116. ADVAIR HFA [Suspect]
     Active Substance: FLUTICASONE PROPIONATE\SALMETEROL XINAFOATE
     Indication: Product used for unknown indication
     Dosage: 500MG 5QD, ROA: UNKNOWN
  117. ADVAIR HFA [Suspect]
     Active Substance: FLUTICASONE PROPIONATE\SALMETEROL XINAFOATE
     Dosage: 500MG 5QD, ROA: UNKNOWN
  118. ADVAIR HFA [Suspect]
     Active Substance: FLUTICASONE PROPIONATE\SALMETEROL XINAFOATE
     Dosage: 500MG 5QD, ROA: UNKNOWN
  119. ADVAIR HFA [Suspect]
     Active Substance: FLUTICASONE PROPIONATE\SALMETEROL XINAFOATE
     Dosage: 500 MG, QD, ROA: UNKNOWN
  120. ADVAIR HFA [Suspect]
     Active Substance: FLUTICASONE PROPIONATE\SALMETEROL XINAFOATE
     Dosage: 500 MG, QD, ROA: UNKNOWN
  121. ADVAIR HFA [Suspect]
     Active Substance: FLUTICASONE PROPIONATE\SALMETEROL XINAFOATE
     Dosage: 500 MG, QD, ROA: UNKNOWN
  122. ADVAIR HFA [Suspect]
     Active Substance: FLUTICASONE PROPIONATE\SALMETEROL XINAFOATE
     Dosage: 500 MG, QD, ROA: UNKNOWN
  123. ADVAIR HFA [Suspect]
     Active Substance: FLUTICASONE PROPIONATE\SALMETEROL XINAFOATE
     Dosage: 500 MG, ROA: UNKNOWN
  124. ADVAIR HFA [Suspect]
     Active Substance: FLUTICASONE PROPIONATE\SALMETEROL XINAFOATE
     Dosage: 500MG 5QD, ROA: UNKNOWN
  125. ADVAIR HFA [Suspect]
     Active Substance: FLUTICASONE PROPIONATE\SALMETEROL XINAFOATE
     Dosage: 500MG 5QD, ROA: UNKNOWN
  126. ADVAIR HFA [Suspect]
     Active Substance: FLUTICASONE PROPIONATE\SALMETEROL XINAFOATE
     Dosage: 500MG 5QD
  127. ADVAIR HFA [Suspect]
     Active Substance: FLUTICASONE PROPIONATE\SALMETEROL XINAFOATE
     Dosage: 500 MG, ROA: UNKNOWN
  128. ADVAIR HFA [Suspect]
     Active Substance: FLUTICASONE PROPIONATE\SALMETEROL XINAFOATE
     Dosage: 500 MG, ROA: UNKNOWN
  129. ADVAIR HFA [Suspect]
     Active Substance: FLUTICASONE PROPIONATE\SALMETEROL XINAFOATE
     Dosage: 500 MG, ROA: UNKNOWN
  130. ALBUTEROL SULFATE [Suspect]
     Active Substance: ALBUTEROL SULFATE
     Indication: Product used for unknown indication
     Dosage: UNK (METERED-DOSE, AEROSOL), ROA: UNKNOWN
  131. ALBUTEROL SULFATE [Suspect]
     Active Substance: ALBUTEROL SULFATE
     Dosage: UNK (METERED-DOSE, AEROSOL)
  132. ALBUTEROL SULFATE [Suspect]
     Active Substance: ALBUTEROL SULFATE
     Dosage: UNK (METERED-DOSE, AEROSOL), ROA: UNKNOWN
  133. ALBUTEROL SULFATE [Suspect]
     Active Substance: ALBUTEROL SULFATE
  134. ALBUTEROL SULFATE [Suspect]
     Active Substance: ALBUTEROL SULFATE
     Dosage: UNK (METERED-DOSE, AEROSOL), ROA: UNKNOWN
  135. ALBUTEROL SULFATE [Suspect]
     Active Substance: ALBUTEROL SULFATE
     Dosage: UNK (METERED-DOSE, AEROSOL)
  136. ALBUTEROL SULFATE [Suspect]
     Active Substance: ALBUTEROL SULFATE
     Dosage: UNK (METERED-DOSE, AEROSOL), ROA: UNKNOWN
  137. ALBUTEROL SULFATE [Suspect]
     Active Substance: ALBUTEROL SULFATE
  138. ALBUTEROL SULFATE [Suspect]
     Active Substance: ALBUTEROL SULFATE
     Dosage: UNK (METERED-DOSE, AEROSOL), ROA: UNKNOWN
  139. ALBUTEROL SULFATE [Suspect]
     Active Substance: ALBUTEROL SULFATE
     Dosage: UNK (METERED-DOSE, AEROSOL)
  140. ALBUTEROL SULFATE [Suspect]
     Active Substance: ALBUTEROL SULFATE
     Dosage: UNK (METERED-DOSE, AEROSOL), ROA: UNKNOWN
  141. ALBUTEROL SULFATE [Suspect]
     Active Substance: ALBUTEROL SULFATE
  142. ALBUTEROL SULFATE [Suspect]
     Active Substance: ALBUTEROL SULFATE
     Dosage: UNK (METERED-DOSE, AEROSOL)
  143. ALBUTEROL SULFATE [Suspect]
     Active Substance: ALBUTEROL SULFATE
  144. ALBUTEROL SULFATE [Suspect]
     Active Substance: ALBUTEROL SULFATE
     Dosage: UNK (METERED-DOSE, AEROSOL)
  145. ALBUTEROL SULFATE [Suspect]
     Active Substance: ALBUTEROL SULFATE
  146. ALBUTEROL SULFATE [Suspect]
     Active Substance: ALBUTEROL SULFATE
     Dosage: UNK (METERED-DOSE, AEROSOL)
  147. ALBUTEROL SULFATE [Suspect]
     Active Substance: ALBUTEROL SULFATE
  148. ALBUTEROL [Suspect]
     Active Substance: ALBUTEROL
     Indication: Product used for unknown indication
     Dosage: UNK, ROA: UNKNOWN
  149. ALBUTEROL [Suspect]
     Active Substance: ALBUTEROL
     Dosage: UNK
  150. ALBUTEROL [Suspect]
     Active Substance: ALBUTEROL
     Dosage: UNK, ROA: UNKNOWN
  151. ALBUTEROL [Suspect]
     Active Substance: ALBUTEROL
  152. ALBUTEROL [Suspect]
     Active Substance: ALBUTEROL
     Dosage: UNK
  153. ALBUTEROL [Suspect]
     Active Substance: ALBUTEROL
  154. DIPHENHYDRAMINE [Suspect]
     Active Substance: DIPHENHYDRAMINE
     Indication: Product used for unknown indication
     Dosage: 75 MG, ROA: UNKNOWN
  155. DIPHENHYDRAMINE [Suspect]
     Active Substance: DIPHENHYDRAMINE
     Dosage: 75 MG, QD, ROA: UNKNOWN
  156. DIPHENHYDRAMINE [Suspect]
     Active Substance: DIPHENHYDRAMINE
     Dosage: 75 MG, QD, ROA: UNKNOWN
  157. DIPHENHYDRAMINE [Suspect]
     Active Substance: DIPHENHYDRAMINE
     Dosage: 75 MG, ROA: UNKNOWN
  158. DIPHENHYDRAMINE [Suspect]
     Active Substance: DIPHENHYDRAMINE
     Dosage: UNK, ROA: UNKNOWN
  159. DIPHENHYDRAMINE [Suspect]
     Active Substance: DIPHENHYDRAMINE
     Dosage: 75 MG, ROA: UNKNOWN
  160. DIPHENHYDRAMINE [Suspect]
     Active Substance: DIPHENHYDRAMINE
     Dosage: 75 MG, ROA: UNKNOWN
  161. DIPHENHYDRAMINE [Suspect]
     Active Substance: DIPHENHYDRAMINE
     Dosage: 75 MG, QD, ROA: UNKNOWN
  162. DIPHENHYDRAMINE [Suspect]
     Active Substance: DIPHENHYDRAMINE
     Dosage: 75 MG, QD, ROA: UNKNOWN
  163. DIPHENHYDRAMINE [Suspect]
     Active Substance: DIPHENHYDRAMINE
     Dosage: 75 MG, QD, ROA: UNKNOWN
  164. NORTRIPTYLINE HYDROCHLORIDE [Suspect]
     Active Substance: NORTRIPTYLINE HYDROCHLORIDE
     Indication: Product used for unknown indication
  165. NORTRIPTYLINE HYDROCHLORIDE [Suspect]
     Active Substance: NORTRIPTYLINE HYDROCHLORIDE
  166. NORTRIPTYLINE HYDROCHLORIDE [Suspect]
     Active Substance: NORTRIPTYLINE HYDROCHLORIDE
  167. BUPROPION HYDROCHLORIDE [Suspect]
     Active Substance: BUPROPION HYDROCHLORIDE
     Indication: Product used for unknown indication
     Dosage: 150 MG, ROA: UNKNOWN
  168. BUPROPION HYDROCHLORIDE [Suspect]
     Active Substance: BUPROPION HYDROCHLORIDE
     Dosage: UNK, ROA: UNKNOWN
  169. BUPROPION HYDROCHLORIDE [Suspect]
     Active Substance: BUPROPION HYDROCHLORIDE
     Dosage: UNK
  170. BUPROPION HYDROCHLORIDE [Suspect]
     Active Substance: BUPROPION HYDROCHLORIDE
     Dosage: UNK
  171. BUPROPION HYDROCHLORIDE [Suspect]
     Active Substance: BUPROPION HYDROCHLORIDE
  172. BUPROPION HYDROCHLORIDE [Suspect]
     Active Substance: BUPROPION HYDROCHLORIDE
     Dosage: 150 MG, ROA: UNKNOWN
  173. BUPROPION HYDROCHLORIDE [Suspect]
     Active Substance: BUPROPION HYDROCHLORIDE
     Dosage: 150 MG, ROA: UNKNOWN
  174. BUPROPION HYDROCHLORIDE [Suspect]
     Active Substance: BUPROPION HYDROCHLORIDE
     Dosage: UNK
  175. BUPROPION HYDROCHLORIDE [Suspect]
     Active Substance: BUPROPION HYDROCHLORIDE
     Dosage: UNK
  176. BUPROPION HYDROCHLORIDE [Suspect]
     Active Substance: BUPROPION HYDROCHLORIDE
  177. BUPROPION HYDROCHLORIDE [Suspect]
     Active Substance: BUPROPION HYDROCHLORIDE
     Dosage: UNK
  178. BUPROPION HYDROCHLORIDE [Suspect]
     Active Substance: BUPROPION HYDROCHLORIDE
     Dosage: UNK
  179. CETIRIZINE HYDROCHLORIDE [Suspect]
     Active Substance: CETIRIZINE HYDROCHLORIDE
     Indication: Product used for unknown indication
     Dosage: 20 MG, QD, ROA: UNKNOWN
  180. CETIRIZINE HYDROCHLORIDE [Suspect]
     Active Substance: CETIRIZINE HYDROCHLORIDE
     Dosage: 20 MG, QD, ROA: UNKNOWN
  181. CETIRIZINE HYDROCHLORIDE [Suspect]
     Active Substance: CETIRIZINE HYDROCHLORIDE
     Dosage: 20 MG, QD, ROA: UNKNOWN
  182. CETIRIZINE HYDROCHLORIDE [Suspect]
     Active Substance: CETIRIZINE HYDROCHLORIDE
     Dosage: 20 MG, QD, ROA: UNKNOWN
  183. CETIRIZINE HYDROCHLORIDE [Suspect]
     Active Substance: CETIRIZINE HYDROCHLORIDE
     Dosage: 20 MG, QD, ROA: UNKNOWN
  184. CETIRIZINE HYDROCHLORIDE [Suspect]
     Active Substance: CETIRIZINE HYDROCHLORIDE
     Dosage: 20 MG, QD, ROA: UNKNOWN
  185. CETIRIZINE HYDROCHLORIDE [Suspect]
     Active Substance: CETIRIZINE HYDROCHLORIDE
     Dosage: 20 MG, QD, ROA: UNKNOWN
  186. CETIRIZINE HYDROCHLORIDE [Suspect]
     Active Substance: CETIRIZINE HYDROCHLORIDE
     Dosage: 20 MG, QD, ROA: UNKNOWN
  187. CETIRIZINE HYDROCHLORIDE [Suspect]
     Active Substance: CETIRIZINE HYDROCHLORIDE
     Dosage: 20 MG, QD, ROA: UNKNOWN
  188. CETIRIZINE HYDROCHLORIDE [Suspect]
     Active Substance: CETIRIZINE HYDROCHLORIDE
     Dosage: 20 MG, QD, ROA: UNKNOWN
  189. CETIRIZINE HYDROCHLORIDE [Suspect]
     Active Substance: CETIRIZINE HYDROCHLORIDE
     Dosage: 20 MG, ROA: UNKNOWN
  190. OXYCODONE AND ACETAMINOPHEN [Suspect]
     Active Substance: ACETAMINOPHEN\OXYCODONE HYDROCHLORIDE
     Indication: Product used for unknown indication
     Dosage: UNK, ROA: UNKNOWN
  191. OXYCODONE AND ACETAMINOPHEN [Suspect]
     Active Substance: ACETAMINOPHEN\OXYCODONE HYDROCHLORIDE
     Dosage: UNK
  192. OXYCODONE AND ACETAMINOPHEN [Suspect]
     Active Substance: ACETAMINOPHEN\OXYCODONE HYDROCHLORIDE
  193. CLONIDINE [Suspect]
     Active Substance: CLONIDINE
     Indication: Eczema
     Dosage: UNK, ROA: UNKNOWN
  194. CLONIDINE [Suspect]
     Active Substance: CLONIDINE
     Dosage: UNK
  195. CLONIDINE [Suspect]
     Active Substance: CLONIDINE
     Dosage: UNK, ROA: UNKNOWN
  196. CLONIDINE [Suspect]
     Active Substance: CLONIDINE
     Dosage: UNK
  197. CLONIDINE [Suspect]
     Active Substance: CLONIDINE
     Dosage: UNK, ROA: UNKNOWN
  198. CLONIDINE [Suspect]
     Active Substance: CLONIDINE
  199. CLONIDINE [Suspect]
     Active Substance: CLONIDINE
     Dosage: UNK
  200. CLONIDINE [Suspect]
     Active Substance: CLONIDINE
  201. CLONIDINE [Suspect]
     Active Substance: CLONIDINE
     Dosage: UNK
  202. CLONIDINE [Suspect]
     Active Substance: CLONIDINE
  203. FLUCONAZOLE [Suspect]
     Active Substance: FLUCONAZOLE
     Indication: Product used for unknown indication
     Dosage: UNK, ROA: UNKNOWN
  204. FLUCONAZOLE [Suspect]
     Active Substance: FLUCONAZOLE
     Dosage: UNK
  205. FLUCONAZOLE [Suspect]
     Active Substance: FLUCONAZOLE
  206. HYDROMORPHONE [Suspect]
     Active Substance: HYDROMORPHONE
     Indication: Product used for unknown indication
     Dosage: UNK, ROA: UNKNOWN
  207. HYDROMORPHONE [Suspect]
     Active Substance: HYDROMORPHONE
     Dosage: UNK
  208. HYDROMORPHONE [Suspect]
     Active Substance: HYDROMORPHONE
     Dosage: UNK, ROA: UNKNOWN
  209. HYDROMORPHONE [Suspect]
     Active Substance: HYDROMORPHONE
  210. HYDROMORPHONE [Suspect]
     Active Substance: HYDROMORPHONE
     Dosage: UNK
  211. HYDROMORPHONE [Suspect]
     Active Substance: HYDROMORPHONE
  212. HYDROMORPHONE HYDROCHLORIDE [Suspect]
     Active Substance: HYDROMORPHONE HYDROCHLORIDE
     Indication: Product used for unknown indication
     Dosage: UNK, ROA: UNKNOWN
  213. HYDROMORPHONE HYDROCHLORIDE [Suspect]
     Active Substance: HYDROMORPHONE HYDROCHLORIDE
     Dosage: UNK
  214. HYDROMORPHONE HYDROCHLORIDE [Suspect]
     Active Substance: HYDROMORPHONE HYDROCHLORIDE
     Dosage: UNK, ROA: UNKNOWN
  215. HYDROMORPHONE HYDROCHLORIDE [Suspect]
     Active Substance: HYDROMORPHONE HYDROCHLORIDE
     Dosage: UNK
  216. HYDROMORPHONE HYDROCHLORIDE [Suspect]
     Active Substance: HYDROMORPHONE HYDROCHLORIDE
     Dosage: UNK
  217. HYDROMORPHONE HYDROCHLORIDE [Suspect]
     Active Substance: HYDROMORPHONE HYDROCHLORIDE
  218. ABACAVIR [Suspect]
     Active Substance: ABACAVIR
     Indication: Product used for unknown indication
     Dosage: UNK, ROA: UNKNOWN
  219. ABACAVIR [Suspect]
     Active Substance: ABACAVIR
     Dosage: UNK
  220. ABACAVIR [Suspect]
     Active Substance: ABACAVIR
  221. ABACAVIR\LAMIVUDINE [Suspect]
     Active Substance: ABACAVIR\LAMIVUDINE
     Indication: Product used for unknown indication
     Dosage: UNK, ROA: UNKNOWN
  222. ABACAVIR\LAMIVUDINE [Suspect]
     Active Substance: ABACAVIR\LAMIVUDINE
     Dosage: UNK
  223. ABACAVIR\LAMIVUDINE [Suspect]
     Active Substance: ABACAVIR\LAMIVUDINE
  224. ACTEMRA [Suspect]
     Active Substance: TOCILIZUMAB
     Indication: Rheumatoid arthritis
     Dosage: 500MG 5QD, DOSE FORM: SOLUTION FOR INJECTION, ROA: SUBCUTANEOUS
  225. ACTEMRA [Suspect]
     Active Substance: TOCILIZUMAB
     Dosage: 500 MG, DOSE FORM: SOLUTION FOR INJECTION, ROA: SUBCUTANEOUS
  226. ACTEMRA [Suspect]
     Active Substance: TOCILIZUMAB
     Dosage: 500 MG, QD, DOSE FORM: SOLUTION FOR INJECTION, ROA: SUBCUTANEOUS
  227. ACTEMRA [Suspect]
     Active Substance: TOCILIZUMAB
     Dosage: 500 MG, SOLUTION FOR INJECTION, ROA: SUBCUTANEOUS
  228. ACTEMRA [Suspect]
     Active Substance: TOCILIZUMAB
     Dosage: 50MG 5QD, DOSE FORM: SOLUTION FOR INJECTION, ROA: SUBCUTANEOUS
  229. ACTEMRA [Suspect]
     Active Substance: TOCILIZUMAB
     Dosage: 500MG 5QD, DOSE FORM: SOLUTION FOR INJECTION, ROA: SUBCUTANEOUS
  230. ACTEMRA [Suspect]
     Active Substance: TOCILIZUMAB
     Dosage: 500MG 5QD, DOSE FORM: SOLUTION FOR INJECTION, ROA: SUBCUTANEOUS
  231. ACTEMRA [Suspect]
     Active Substance: TOCILIZUMAB
     Dosage: 500MG 5QD, DOSE FORM: SOLUTION FOR INJECTION, ROA: SUBCUTANEOUS
  232. ACTEMRA [Suspect]
     Active Substance: TOCILIZUMAB
     Dosage: 50 MG, DOSE FORM: SOLUTION FOR INJECTION, ROA: UNKNOWN
  233. ACTEMRA [Suspect]
     Active Substance: TOCILIZUMAB
     Dosage: 500 MG, SOLUTION FOR INJECTION, ROA: SUBCUTANEOUS
  234. ACTEMRA [Suspect]
     Active Substance: TOCILIZUMAB
     Dosage: DOSE FORM: SOLUTION FOR INJECTION
  235. ACTEMRA [Suspect]
     Active Substance: TOCILIZUMAB
     Dosage: 500 MG, QD, DOSE FORM: SOLUTION FOR INJECTION, ROA: SUBCUTANEOUS
  236. ACTEMRA [Suspect]
     Active Substance: TOCILIZUMAB
     Dosage: 1000 MG,  DOSE FORM: SOLUTION FOR INJECTION, ROA: SUBCUTANEOUS
  237. ACTEMRA [Suspect]
     Active Substance: TOCILIZUMAB
     Dosage: 100 MG, QD, DOSE FORM: SOLUTION FOR INJECTION, ROA: SUBCUTANEOUS
  238. ACTEMRA [Suspect]
     Active Substance: TOCILIZUMAB
     Dosage: 50 MG, SOLUTION FOR INJECTION, ROA: SUBCUTANEOUS
  239. ACTEMRA [Suspect]
     Active Substance: TOCILIZUMAB
     Dosage: UNK, SOLUTION FOR INJECTION. ROUTE: UNKNOWN
  240. ACTEMRA [Suspect]
     Active Substance: TOCILIZUMAB
     Dosage: 500 MG, SOLUTION FOR INJECTION, ROA: SUBCUTANEOUS
  241. ACTEMRA [Suspect]
     Active Substance: TOCILIZUMAB
     Dosage: UNK,  DOSE FORM: SOLUTION FOR INJECTION, ROA: SUBCUTANEOUS
  242. ACTEMRA [Suspect]
     Active Substance: TOCILIZUMAB
     Dosage: 50 MG,  DOSE FORM: SOLUTION FOR INJECTION, ROA: SUBCUTANEOUS
  243. ACTEMRA [Suspect]
     Active Substance: TOCILIZUMAB
     Dosage: 500 MG, SOLUTION FOR INJECTION , ROA: SUBCUTANEOUS
  244. ACTEMRA [Suspect]
     Active Substance: TOCILIZUMAB
     Dosage: 500 MG, SOLUTION FOR INJECTION, ROA: SUBCUTANEOUS
  245. ACTEMRA [Suspect]
     Active Substance: TOCILIZUMAB
     Dosage: UNK, SOLUTION FOR INJECTION, ROA: UNKNOWN
  246. ACTEMRA [Suspect]
     Active Substance: TOCILIZUMAB
     Dosage: 1000 MG, SOLUTION FOR INJECTION, ROA: SUBCUTANEOUS
  247. ACTEMRA [Suspect]
     Active Substance: TOCILIZUMAB
     Dosage: UNK, SOLUTION FOR INJECTION, ROA: SUBCUTANEOUS
  248. ACTEMRA [Suspect]
     Active Substance: TOCILIZUMAB
     Dosage: 50 MG, SOLUTION FOR INJECTION, ROA: UNKNOWN
  249. ACTEMRA [Suspect]
     Active Substance: TOCILIZUMAB
     Dosage: 500 MG, 5QD, SOLUTION FOR INJECTION, ROA: SUBCUTANEOUS
  250. CHLORMEZANONE [Suspect]
     Active Substance: CHLORMEZANONE
     Indication: Rheumatoid arthritis
     Dosage: UNK, ROA: UNKNOWN
  251. CHLORMEZANONE [Suspect]
     Active Substance: CHLORMEZANONE
     Dosage: UNK
  252. CHLORMEZANONE [Suspect]
     Active Substance: CHLORMEZANONE
     Dosage: UNK, ROA: UNKNOWN
  253. CHLORMEZANONE [Suspect]
     Active Substance: CHLORMEZANONE
     Dosage: UNK
  254. CHLORMEZANONE [Suspect]
     Active Substance: CHLORMEZANONE
     Dosage: UNK
  255. CHLORMEZANONE [Suspect]
     Active Substance: CHLORMEZANONE
  256. CHLORMEZANONE [Suspect]
     Active Substance: CHLORMEZANONE
     Dosage: UNK
  257. CHLORMEZANONE [Suspect]
     Active Substance: CHLORMEZANONE
  258. CHLORMEZANONE [Suspect]
     Active Substance: CHLORMEZANONE
     Dosage: UNK
  259. CHLORMEZANONE [Suspect]
     Active Substance: CHLORMEZANONE
     Dosage: UNK
  260. CHLORMEZANONE [Suspect]
     Active Substance: CHLORMEZANONE
     Dosage: UNK
  261. CITALOPRAM HYDROBROMIDE [Suspect]
     Active Substance: CITALOPRAM HYDROBROMIDE
     Indication: Product used for unknown indication
     Dosage: UNK, ROA: UNKNOWN
  262. CITALOPRAM HYDROBROMIDE [Suspect]
     Active Substance: CITALOPRAM HYDROBROMIDE
     Dosage: UNK
  263. CITALOPRAM HYDROBROMIDE [Suspect]
     Active Substance: CITALOPRAM HYDROBROMIDE
     Dosage: UNK
  264. CITALOPRAM HYDROBROMIDE [Suspect]
     Active Substance: CITALOPRAM HYDROBROMIDE
  265. CITALOPRAM HYDROBROMIDE [Suspect]
     Active Substance: CITALOPRAM HYDROBROMIDE
     Dosage: UNK
  266. CITALOPRAM HYDROBROMIDE [Suspect]
     Active Substance: CITALOPRAM HYDROBROMIDE
  267. CITALOPRAM HYDROBROMIDE [Suspect]
     Active Substance: CITALOPRAM HYDROBROMIDE
     Dosage: UNK
  268. CITALOPRAM HYDROBROMIDE [Suspect]
     Active Substance: CITALOPRAM HYDROBROMIDE
  269. CITALOPRAM HYDROBROMIDE [Suspect]
     Active Substance: CITALOPRAM HYDROBROMIDE
     Dosage: UNK
  270. CODEINE [Suspect]
     Active Substance: CODEINE
     Indication: Product used for unknown indication
     Dosage: UNK, ROA: UNKNOWN
  271. CODEINE [Suspect]
     Active Substance: CODEINE
     Dosage: UNK
  272. CODEINE [Suspect]
     Active Substance: CODEINE
     Dosage: UNK , UNKNOWN ROUTE
  273. CRINONE [Suspect]
     Active Substance: PROGESTERONE
     Indication: Product used for unknown indication
     Dosage: UNK, ROA: UNKNOWN
  274. CRINONE [Suspect]
     Active Substance: PROGESTERONE
     Dosage: UNK, INTRAMUSCULAR USE
  275. CRINONE [Suspect]
     Active Substance: PROGESTERONE
     Dosage: UNK, ROA: INTRAMUSCULAR USE
  276. CRINONE [Suspect]
     Active Substance: PROGESTERONE
     Dosage: UNK
  277. CRINONE [Suspect]
     Active Substance: PROGESTERONE
     Dosage: UNK, ROA: UNKNOWN
  278. CRINONE [Suspect]
     Active Substance: PROGESTERONE
     Dosage: UNK, INTRAMUSCULAR USE
  279. CRINONE [Suspect]
     Active Substance: PROGESTERONE
     Dosage: UNK, ROA: UNKNOWN
  280. CRINONE [Suspect]
     Active Substance: PROGESTERONE
  281. CRINONE [Suspect]
     Active Substance: PROGESTERONE
     Dosage: UNK, ROA: INTRAMUSCULAR USE
  282. CRINONE [Suspect]
     Active Substance: PROGESTERONE
     Dosage: UNK
  283. CRINONE [Suspect]
     Active Substance: PROGESTERONE
     Dosage: UNK, ROA: UNKNOWN
  284. CRINONE [Suspect]
     Active Substance: PROGESTERONE
     Dosage: UNK
  285. CRINONE [Suspect]
     Active Substance: PROGESTERONE
     Dosage: UNK
  286. CRINONE [Suspect]
     Active Substance: PROGESTERONE
     Dosage: UNK, INTRAMUSCULAR USE
  287. CRINONE [Suspect]
     Active Substance: PROGESTERONE
     Dosage: UNK, INTRAMUSCULAR USE
  288. CRINONE [Suspect]
     Active Substance: PROGESTERONE
     Dosage: UNK
  289. CRINONE [Suspect]
     Active Substance: PROGESTERONE
     Dosage: UNK
  290. CRINONE [Suspect]
     Active Substance: PROGESTERONE
     Dosage: UNK
  291. CYCLOBENZAPRINE [Suspect]
     Active Substance: CYCLOBENZAPRINE
     Indication: Eczema
     Dosage: UNK, ROA: OCULAR USE
  292. CYCLOBENZAPRINE [Suspect]
     Active Substance: CYCLOBENZAPRINE
     Dosage: UNK
  293. CYCLOBENZAPRINE [Suspect]
     Active Substance: CYCLOBENZAPRINE
     Dosage: UNK, ROA: UNKNOWN
  294. CYCLOBENZAPRINE [Suspect]
     Active Substance: CYCLOBENZAPRINE
     Dosage: UNK (OCULAR USE)
  295. CYCLOBENZAPRINE [Suspect]
     Active Substance: CYCLOBENZAPRINE
     Dosage: UNK
  296. CYCLOBENZAPRINE [Suspect]
     Active Substance: CYCLOBENZAPRINE
     Dosage: ROA: OPHTHALMIC
  297. CYCLOBENZAPRINE [Suspect]
     Active Substance: CYCLOBENZAPRINE
     Dosage: UNK
  298. CYCLOBENZAPRINE [Suspect]
     Active Substance: CYCLOBENZAPRINE
     Dosage: UNK
  299. CYCLOBENZAPRINE [Suspect]
     Active Substance: CYCLOBENZAPRINE
     Dosage: UNK
  300. CYCLOBENZAPRINE [Suspect]
     Active Substance: CYCLOBENZAPRINE
     Dosage: UNK, OCULAR USE
  301. CYCLOBENZAPRINE [Suspect]
     Active Substance: CYCLOBENZAPRINE
     Dosage: UNK
  302. CYCLOBENZAPRINE HYDROCHLORIDE [Suspect]
     Active Substance: CYCLOBENZAPRINE HYDROCHLORIDE
     Indication: Eczema
     Dosage: UNK, ROA: UNKNOWN
  303. CYCLOBENZAPRINE HYDROCHLORIDE [Suspect]
     Active Substance: CYCLOBENZAPRINE HYDROCHLORIDE
     Dosage: UNK
  304. CYCLOBENZAPRINE HYDROCHLORIDE [Suspect]
     Active Substance: CYCLOBENZAPRINE HYDROCHLORIDE
  305. DEMEROL [Suspect]
     Active Substance: MEPERIDINE HYDROCHLORIDE
     Indication: Product used for unknown indication
     Dosage: UNK, ROA: UNKNOWN
  306. DEMEROL [Suspect]
     Active Substance: MEPERIDINE HYDROCHLORIDE
     Dosage: UNK
  307. DEMEROL [Suspect]
     Active Substance: MEPERIDINE HYDROCHLORIDE
     Dosage: UNK
  308. DEMEROL [Suspect]
     Active Substance: MEPERIDINE HYDROCHLORIDE
  309. DEMEROL [Suspect]
     Active Substance: MEPERIDINE HYDROCHLORIDE
     Dosage: UNK
  310. FLOVENT [Suspect]
     Active Substance: FLUTICASONE PROPIONATE
     Indication: Product used for unknown indication
     Dosage: UNK, QD, ROA: UNKNOWN
  311. FLOVENT [Suspect]
     Active Substance: FLUTICASONE PROPIONATE
     Dosage: UNK, ROA: UNKNOWN
  312. FLOVENT [Suspect]
     Active Substance: FLUTICASONE PROPIONATE
     Dosage: UNK
  313. FLOVENT [Suspect]
     Active Substance: FLUTICASONE PROPIONATE
  314. NORTRIPTYLINE [Suspect]
     Active Substance: NORTRIPTYLINE
     Indication: Product used for unknown indication
     Dosage: UNK, ROA: UNKNOWN
  315. NORTRIPTYLINE [Suspect]
     Active Substance: NORTRIPTYLINE
     Dosage: UNK
  316. NORTRIPTYLINE [Suspect]
     Active Substance: NORTRIPTYLINE
     Dosage: UNK, ROA: UNKNOWN
  317. NORTRIPTYLINE [Suspect]
     Active Substance: NORTRIPTYLINE
     Dosage: UNK
  318. NORTRIPTYLINE [Suspect]
     Active Substance: NORTRIPTYLINE
     Dosage: UNK
  319. NORTRIPTYLINE [Suspect]
     Active Substance: NORTRIPTYLINE
  320. NORTRIPTYLINE HYDROCHLORIDE [Suspect]
     Active Substance: NORTRIPTYLINE HYDROCHLORIDE
     Indication: Product used for unknown indication
     Dosage: UNK, ROA: UNKNOWN
  321. NORTRIPTYLINE HYDROCHLORIDE [Suspect]
     Active Substance: NORTRIPTYLINE HYDROCHLORIDE
     Dosage: UNK, UNKNOWN ROUTE
  322. NORTRIPTYLINE HYDROCHLORIDE [Suspect]
     Active Substance: NORTRIPTYLINE HYDROCHLORIDE
     Dosage: UNK, ROA: UNKNOWN
  323. NORTRIPTYLINE HYDROCHLORIDE [Suspect]
     Active Substance: NORTRIPTYLINE HYDROCHLORIDE
     Dosage: UNK, UNKNOWN ROUTE
  324. NORTRIPTYLINE HYDROCHLORIDE [Suspect]
     Active Substance: NORTRIPTYLINE HYDROCHLORIDE
     Dosage: 10 MG, QD, UNKNOWN ROUTE
  325. NORTRIPTYLINE HYDROCHLORIDE [Suspect]
     Active Substance: NORTRIPTYLINE HYDROCHLORIDE
     Dosage: UNKNOWN ROUTE
  326. NORTRIPTYLINE HYDROCHLORIDE [Suspect]
     Active Substance: NORTRIPTYLINE HYDROCHLORIDE
     Dosage: UNK, UNKNOWN ROUTE
  327. ORENCIA [Suspect]
     Active Substance: ABATACEPT
     Indication: Product used for unknown indication
     Dosage: UNK, ROA: UNKNOWN
  328. ORENCIA [Suspect]
     Active Substance: ABATACEPT
     Dosage: UNK
  329. ORENCIA [Suspect]
     Active Substance: ABATACEPT
     Dosage: UNK
  330. ORENCIA [Suspect]
     Active Substance: ABATACEPT
  331. ORENCIA [Suspect]
     Active Substance: ABATACEPT
     Dosage: 1 DOSAGE FORM, QD, ROA: UNKNOWN
  332. ORENCIA [Suspect]
     Active Substance: ABATACEPT
     Dosage: UNK, QW, ROA; INTRAVENOUS (NOT OTHERWISE SPECIFIED)
  333. ORENCIA [Suspect]
     Active Substance: ABATACEPT
     Dosage: 1 DOSAGE FORM, QW, ROA:INTRAVENOUS (NOT OTHERWISE SPECIFIED)
  334. PANTOPRAZOLE MAGNESIUM [Suspect]
     Active Substance: PANTOPRAZOLE MAGNESIUM
     Indication: Product used for unknown indication
     Dosage: UNK, ROA: UNKNOWN
  335. PANTOPRAZOLE MAGNESIUM [Suspect]
     Active Substance: PANTOPRAZOLE MAGNESIUM
     Dosage: UNK
  336. PANTOPRAZOLE MAGNESIUM [Suspect]
     Active Substance: PANTOPRAZOLE MAGNESIUM
     Dosage: UNK, ROA: UNKNOWN
  337. PANTOPRAZOLE MAGNESIUM [Suspect]
     Active Substance: PANTOPRAZOLE MAGNESIUM
  338. PANTOPRAZOLE MAGNESIUM [Suspect]
     Active Substance: PANTOPRAZOLE MAGNESIUM
     Dosage: UNK, ROA: UNKNOWN
  339. PANTOPRAZOLE MAGNESIUM [Suspect]
     Active Substance: PANTOPRAZOLE MAGNESIUM
     Dosage: UNK
  340. PANTOPRAZOLE MAGNESIUM [Suspect]
     Active Substance: PANTOPRAZOLE MAGNESIUM
     Dosage: UNK, ROA: UNKNOWN
  341. PANTOPRAZOLE MAGNESIUM [Suspect]
     Active Substance: PANTOPRAZOLE MAGNESIUM
  342. PANTOPRAZOLE MAGNESIUM [Suspect]
     Active Substance: PANTOPRAZOLE MAGNESIUM
     Dosage: UNK, ROA: UNKNOWN
  343. PANTOPRAZOLE MAGNESIUM [Suspect]
     Active Substance: PANTOPRAZOLE MAGNESIUM
     Dosage: UNK
  344. PANTOPRAZOLE MAGNESIUM [Suspect]
     Active Substance: PANTOPRAZOLE MAGNESIUM
     Dosage: UNK, ROA: UNKNOWN
  345. PANTOPRAZOLE MAGNESIUM [Suspect]
     Active Substance: PANTOPRAZOLE MAGNESIUM
  346. PANTOPRAZOLE MAGNESIUM [Suspect]
     Active Substance: PANTOPRAZOLE MAGNESIUM
     Dosage: UNK
  347. PANTOPRAZOLE MAGNESIUM [Suspect]
     Active Substance: PANTOPRAZOLE MAGNESIUM
  348. PANTOPRAZOLE MAGNESIUM [Suspect]
     Active Substance: PANTOPRAZOLE MAGNESIUM
     Dosage: UNK
  349. PANTOPRAZOLE MAGNESIUM [Suspect]
     Active Substance: PANTOPRAZOLE MAGNESIUM
  350. PANTOPRAZOLE MAGNESIUM [Suspect]
     Active Substance: PANTOPRAZOLE MAGNESIUM
     Dosage: UNK
  351. PANTOPRAZOLE MAGNESIUM [Suspect]
     Active Substance: PANTOPRAZOLE MAGNESIUM
  352. GABAPENTIN [Suspect]
     Active Substance: GABAPENTIN
     Indication: Product used for unknown indication
     Dosage: UNK, ROA: UNKNOWN
  353. GABAPENTIN [Suspect]
     Active Substance: GABAPENTIN
     Dosage: UNK
  354. GABAPENTIN [Suspect]
     Active Substance: GABAPENTIN
     Dosage: UNK
  355. GABAPENTIN [Suspect]
     Active Substance: GABAPENTIN
  356. HUMIRA [Suspect]
     Active Substance: ADALIMUMAB
     Indication: Product used for unknown indication
     Dosage: UNK, DOSE FORM: SOLUTION, ROA:SUBCUTANEOUS
  357. HUMIRA [Suspect]
     Active Substance: ADALIMUMAB
     Dosage: UNK, DOSE FORM: SOLUTION, ROA:SUBCUTANEOUS
     Route: 058
  358. HUMIRA [Suspect]
     Active Substance: ADALIMUMAB
     Dosage: UNK, DOSE FORM: SOLUTION, ROA:SUBCUTANEOUS
  359. HUMIRA [Suspect]
     Active Substance: ADALIMUMAB
     Dosage: DOSE FORM: SOLUTION, ROA:SUBCUTANEOUS
  360. HUMIRA [Suspect]
     Active Substance: ADALIMUMAB
     Dosage: DOSE FORM: SOLUTION, ROA: SUBCUTANEOUS
  361. HUMIRA [Suspect]
     Active Substance: ADALIMUMAB
     Dosage: DOSE FORM: SOLUTION, ROA:SUBCUTANEOUS
  362. HYDROMORPHONE HYDROCHLORIDE [Suspect]
     Active Substance: HYDROMORPHONE HYDROCHLORIDE
     Indication: Product used for unknown indication
     Dosage: UNK, ROA: UNKNOWN
  363. HYDROMORPHONE HYDROCHLORIDE [Suspect]
     Active Substance: HYDROMORPHONE HYDROCHLORIDE
     Dosage: UNK (TABLET (EXTENDED- RELEASE))
  364. HYDROMORPHONE HYDROCHLORIDE [Suspect]
     Active Substance: HYDROMORPHONE HYDROCHLORIDE
     Dosage: UNK (TABLET (EXTENDED- RELEASE), ROA: UNKNOWN
  365. HYDROMORPHONE HYDROCHLORIDE [Suspect]
     Active Substance: HYDROMORPHONE HYDROCHLORIDE
     Dosage: UNK (TABLET (EXTENDED- RELEASE), DOSE FORM: PROLONGED-RELEASE TABLET
  366. HYDROMORPHONE HYDROCHLORIDE [Suspect]
     Active Substance: HYDROMORPHONE HYDROCHLORIDE
     Dosage: UNK
  367. HYDROMORPHONE HYDROCHLORIDE [Suspect]
     Active Substance: HYDROMORPHONE HYDROCHLORIDE
  368. HYDROMORPHONE HYDROCHLORIDE [Suspect]
     Active Substance: HYDROMORPHONE HYDROCHLORIDE
     Dosage: UNK, DOSE FORM: PROLONGED-RELEASE TABLET
  369. HYDROMORPHONE HYDROCHLORIDE [Suspect]
     Active Substance: HYDROMORPHONE HYDROCHLORIDE
  370. KETOPROFEN [Suspect]
     Active Substance: KETOPROFEN
     Indication: Product used for unknown indication
     Dosage: UNK, ROA: UNKNOWN
  371. KETOPROFEN [Suspect]
     Active Substance: KETOPROFEN
     Dosage: UNK
  372. KETOPROFEN [Suspect]
     Active Substance: KETOPROFEN
     Dosage: UNK
  373. KETOPROFEN [Suspect]
     Active Substance: KETOPROFEN
  374. METHYLPREDNISOLONE [Suspect]
     Active Substance: METHYLPREDNISOLONE
     Indication: Product used for unknown indication
     Dosage: UNK, SOLUTION FOR INJECTION, ROA: UNKNOWN
  375. METHYLPREDNISOLONE [Suspect]
     Active Substance: METHYLPREDNISOLONE
     Dosage: UNK, ROUTE: UNKNOWN
  376. METHYLPREDNISOLONE [Suspect]
     Active Substance: METHYLPREDNISOLONE
     Dosage: UNK, DOSE FORM: SOLUTION FOR INJECTION
  377. METHYLPREDNISOLONE [Suspect]
     Active Substance: METHYLPREDNISOLONE
     Dosage: DOSE FORM: SOLUTION FOR INJECTION
  378. METHYLPREDNISOLONE [Suspect]
     Active Substance: METHYLPREDNISOLONE
     Dosage: 1 DOSAGE FORM, DOSE FORM: SOLUTION FOR INJECTION
  379. METHYLPREDNISOLONE [Suspect]
     Active Substance: METHYLPREDNISOLONE
     Dosage: UNK, QMO, DOSE FORM: SOLUTION FOR INJECTION; ROA: UNKNOWN
  380. METHYLPREDNISOLONE [Suspect]
     Active Substance: METHYLPREDNISOLONE
     Dosage: DOSE FORM: SOLUTION FOR INJECTION
  381. METHYLPREDNISOLONE [Suspect]
     Active Substance: METHYLPREDNISOLONE
     Dosage: 1 DOSAGE FORM, QD, DOSE FORM: SOLUTION FOR INJECTION, ROUTE: UNKNOWN
  382. METHYLPREDNISOLONE [Suspect]
     Active Substance: METHYLPREDNISOLONE
     Dosage: UNK, QD, DOSE FORM: SOLUTION FOR INJECTION
  383. METHYLPREDNISOLONE [Suspect]
     Active Substance: METHYLPREDNISOLONE
     Dosage: DOSE FORM: SOLUTION FOR INJECTION
  384. METHYLPREDNISOLONE [Suspect]
     Active Substance: METHYLPREDNISOLONE
     Dosage: UNK, DOSE FORM: SOLUTION FOR INJECTION
  385. METHYLPREDNISOLONE [Suspect]
     Active Substance: METHYLPREDNISOLONE
     Dosage: DOSE FORM: SOLUTION FOR INJECTION
  386. METHYLPREDNISOLONE [Suspect]
     Active Substance: METHYLPREDNISOLONE
     Dosage: UNK, QMO, DOSE FORM: SOLUTION FOR INJECTION
  387. METHYLPREDNISOLONE [Suspect]
     Active Substance: METHYLPREDNISOLONE
     Dosage: DOSE FORM: SOLUTION FOR INJECTION
  388. METHYLPREDNISOLONE [Suspect]
     Active Substance: METHYLPREDNISOLONE
     Dosage: 1 DOSAGE FORM, QMO, DOSE FORM: SOLUTION FOR INJECTION; ROA: UNKNOWN
  389. METHYLPREDNISOLONE [Suspect]
     Active Substance: METHYLPREDNISOLONE
     Dosage: 1 DOSAGE FORM, DOSE FORM: SOLUTION FOR INJECTION
  390. METHYLPREDNISOLONE [Suspect]
     Active Substance: METHYLPREDNISOLONE
     Dosage: 1 DOSAGE FORM, QMO, DOSE FORM: SOLUTION FOR INJECTION; ROA: UNKNOWN
  391. METHYLPREDNISOLONE [Suspect]
     Active Substance: METHYLPREDNISOLONE
     Dosage: UNK, QMO, DOSE FORM: SOLUTION FOR INJECTION
  392. METHYLPREDNISOLONE [Suspect]
     Active Substance: METHYLPREDNISOLONE
     Dosage: DOSE FORM: SOLUTION FOR INJECTION
  393. METHYLPREDNISOLONE [Suspect]
     Active Substance: METHYLPREDNISOLONE
  394. METHYLPREDNISOLONE [Suspect]
     Active Substance: METHYLPREDNISOLONE
  395. METHYLPREDNISOLONE ACETATE [Suspect]
     Active Substance: METHYLPREDNISOLONE ACETATE
     Indication: Product used for unknown indication
     Dosage: UNK, QD, DOSE FORM: SOLUTION FOR INJECTION; ROA: UNKNOWN
  396. METHYLPREDNISOLONE ACETATE [Suspect]
     Active Substance: METHYLPREDNISOLONE ACETATE
     Dosage: UNK, DOSE FORM: SOLUTION FOR INJECTION; ROA: UNKNOWN
  397. METHYLPREDNISOLONE ACETATE [Suspect]
     Active Substance: METHYLPREDNISOLONE ACETATE
     Dosage: UNK
  398. METHYLPREDNISOLONE ACETATE [Suspect]
     Active Substance: METHYLPREDNISOLONE ACETATE
     Dosage: UNK UNK, QD, DOSE FORM: SOLUTION FOR INJECTION; ROA: UNKNOWN
  399. METHYLPREDNISOLONE ACETATE [Suspect]
     Active Substance: METHYLPREDNISOLONE ACETATE
     Dosage: DOSE FORM: SOLUTION FOR INJECTION
  400. METHYLPREDNISOLONE ACETATE [Suspect]
     Active Substance: METHYLPREDNISOLONE ACETATE
     Dosage: 1 DOSAGE FORM, DOSE FORM: SOLUTION FOR INJECTION; ROA: UNKNOWN
  401. METHYLPREDNISOLONE ACETATE [Suspect]
     Active Substance: METHYLPREDNISOLONE ACETATE
     Dosage: UNK, DOSE FORM: SOLUTION FOR INJECTION; ROA: UNKNOWN
  402. METHYLPREDNISOLONE ACETATE [Suspect]
     Active Substance: METHYLPREDNISOLONE ACETATE
     Dosage: UNK
  403. METHYLPREDNISOLONE ACETATE [Suspect]
     Active Substance: METHYLPREDNISOLONE ACETATE
     Dosage: 1 DOSAGE FORM, DOSE FORM: SOLUTION FOR INJECTION; ROA: UNKNOWN
  404. METHYLPREDNISOLONE ACETATE [Suspect]
     Active Substance: METHYLPREDNISOLONE ACETATE
     Dosage: UNK, QD, DOSE FORM: SOLUTION FOR INJECTION; ROA: UNKNOWN
  405. METHYLPREDNISOLONE ACETATE [Suspect]
     Active Substance: METHYLPREDNISOLONE ACETATE
     Dosage: UNK, SUSPENSION FOR INJECTION
  406. METHYLPREDNISOLONE ACETATE [Suspect]
     Active Substance: METHYLPREDNISOLONE ACETATE
     Dosage: 1 DOSAGE FORM, DOSE FORM: SOLUTION FOR INJECTION; ROA: UNKNOWN
  407. METHYLPREDNISOLONE ACETATE [Suspect]
     Active Substance: METHYLPREDNISOLONE ACETATE
     Dosage: UNK, DOSE FORM: SOLUTION FOR INJECTION; ROA: UNKNOWN
  408. METHYLPREDNISOLONE ACETATE [Suspect]
     Active Substance: METHYLPREDNISOLONE ACETATE
     Dosage: UNK, DOSE FORM: SOLUTION FOR INJECTION
  409. METHYLPREDNISOLONE ACETATE [Suspect]
     Active Substance: METHYLPREDNISOLONE ACETATE
     Dosage: UNK, DOSE FORM: SOLUTION FOR INJECTION; ROA: UNKNOWN
  410. METHYLPREDNISOLONE ACETATE [Suspect]
     Active Substance: METHYLPREDNISOLONE ACETATE
     Dosage: DOSE FORM: SOLUTION FOR INJECTION
  411. METHYLPREDNISOLONE ACETATE [Suspect]
     Active Substance: METHYLPREDNISOLONE ACETATE
     Dosage: UNK, QD, DOSE FORM: SOLUTION FOR INJECTION; ROA: UNKNOWN
  412. METHYLPREDNISOLONE ACETATE [Suspect]
     Active Substance: METHYLPREDNISOLONE ACETATE
     Dosage: UNK, QD, DOSE FORM: SOLUTION FOR INJECTION; ROA: UNKNOWN
  413. METHYLPREDNISOLONE ACETATE [Suspect]
     Active Substance: METHYLPREDNISOLONE ACETATE
     Dosage: DOSE FORM: SOLUTION FOR INJECTION
  414. METHYLPREDNISOLONE ACETATE [Suspect]
     Active Substance: METHYLPREDNISOLONE ACETATE
     Dosage: UNK, 5QD, DOSE FORM: SOLUTION FOR INJECTION; ROA: UNKNOWN
  415. METHYLPREDNISOLONE ACETATE [Suspect]
     Active Substance: METHYLPREDNISOLONE ACETATE
     Dosage: UNK, QD, DOSE FORM: SOLUTION FOR INJECTION; ROA: UNKNOWN
  416. METHYLPREDNISOLONE ACETATE [Suspect]
     Active Substance: METHYLPREDNISOLONE ACETATE
     Dosage: UNK, DOSE FORM: SOLUTION FOR INJECTION; ROA: UNKNOWN
  417. METHYLPREDNISOLONE ACETATE [Suspect]
     Active Substance: METHYLPREDNISOLONE ACETATE
     Dosage: UNK, DOSE FORM: SOLUTION FOR INJECTION
  418. METHYLPREDNISOLONE ACETATE [Suspect]
     Active Substance: METHYLPREDNISOLONE ACETATE
     Dosage: UNK
  419. METHYLPREDNISOLONE ACETATE [Suspect]
     Active Substance: METHYLPREDNISOLONE ACETATE
     Dosage: DOSE FORM: SOLUTION FOR INJECTION
  420. METHYLPREDNISOLONE ACETATE [Suspect]
     Active Substance: METHYLPREDNISOLONE ACETATE
     Dosage: UNK
  421. METHYLPREDNISOLONE ACETATE [Suspect]
     Active Substance: METHYLPREDNISOLONE ACETATE
     Dosage: UNK
  422. METHYLPREDNISOLONE ACETATE [Suspect]
     Active Substance: METHYLPREDNISOLONE ACETATE
     Dosage: UNK
  423. METHYLPREDNISOLONE ACETATE [Suspect]
     Active Substance: METHYLPREDNISOLONE ACETATE
     Dosage: UNK, DOSE FORM: SOLUTION FOR INJECTION; ROA: UNKNOWN
  424. METHYLPREDNISOLONE ACETATE [Suspect]
     Active Substance: METHYLPREDNISOLONE ACETATE
     Dosage: UNK
  425. METHYLPREDNISOLONE SODIUM SUCCINATE [Suspect]
     Active Substance: METHYLPREDNISOLONE SODIUM SUCCINATE
     Indication: Product used for unknown indication
     Dosage: 1 DOSAGE FORM, ROA; UNKNOWN
  426. METHYLPREDNISOLONE SODIUM SUCCINATE [Suspect]
     Active Substance: METHYLPREDNISOLONE SODIUM SUCCINATE
     Dosage: 75 MG, ROA; UNKNOWN
  427. METHYLPREDNISOLONE SODIUM SUCCINATE [Suspect]
     Active Substance: METHYLPREDNISOLONE SODIUM SUCCINATE
     Dosage: UNK
  428. METHYLPREDNISOLONE SODIUM SUCCINATE [Suspect]
     Active Substance: METHYLPREDNISOLONE SODIUM SUCCINATE
     Dosage: UNK
  429. METHYLPREDNISOLONE SODIUM SUCCINATE [Suspect]
     Active Substance: METHYLPREDNISOLONE SODIUM SUCCINATE
     Dosage: UNK, ROA; UNKNOWN
  430. METHYLPREDNISOLONE SODIUM SUCCINATE [Suspect]
     Active Substance: METHYLPREDNISOLONE SODIUM SUCCINATE
     Dosage: UNK
  431. METHYLPREDNISOLONE SODIUM SUCCINATE [Suspect]
     Active Substance: METHYLPREDNISOLONE SODIUM SUCCINATE
  432. METHYLPREDNISOLONE SODIUM SUCCINATE [Suspect]
     Active Substance: METHYLPREDNISOLONE SODIUM SUCCINATE
  433. METHYLPREDNISOLONE SODIUM SUCCINATE [Suspect]
     Active Substance: METHYLPREDNISOLONE SODIUM SUCCINATE
  434. METHYLPREDNISOLONE SODIUM SUCCINATE [Suspect]
     Active Substance: METHYLPREDNISOLONE SODIUM SUCCINATE
  435. METHYLPREDNISOLONE SODIUM SUCCINATE [Suspect]
     Active Substance: METHYLPREDNISOLONE SODIUM SUCCINATE
  436. METHYLPREDNISOLONE SODIUM SUCCINATE [Suspect]
     Active Substance: METHYLPREDNISOLONE SODIUM SUCCINATE
  437. METHYLPREDNISOLONE SODIUM SUCCINATE [Suspect]
     Active Substance: METHYLPREDNISOLONE SODIUM SUCCINATE
  438. METHYLPREDNISOLONE SODIUM SUCCINATE [Suspect]
     Active Substance: METHYLPREDNISOLONE SODIUM SUCCINATE
  439. METHYLPREDNISOLONE SODIUM SUCCINATE [Suspect]
     Active Substance: METHYLPREDNISOLONE SODIUM SUCCINATE
  440. METHYLPREDNISOLONE SODIUM SUCCINATE [Suspect]
     Active Substance: METHYLPREDNISOLONE SODIUM SUCCINATE
  441. METHYLPREDNISOLONE SODIUM SUCCINATE [Suspect]
     Active Substance: METHYLPREDNISOLONE SODIUM SUCCINATE
  442. METHYLPREDNISOLONE SODIUM SUCCINATE [Suspect]
     Active Substance: METHYLPREDNISOLONE SODIUM SUCCINATE
  443. METHYLPREDNISOLONE SODIUM SUCCINATE [Suspect]
     Active Substance: METHYLPREDNISOLONE SODIUM SUCCINATE
  444. METHYLPREDNISOLONE SODIUM SUCCINATE [Suspect]
     Active Substance: METHYLPREDNISOLONE SODIUM SUCCINATE
  445. METHYLPREDNISOLONE SODIUM SUCCINATE [Suspect]
     Active Substance: METHYLPREDNISOLONE SODIUM SUCCINATE
  446. METHYLPREDNISOLONE SODIUM SUCCINATE [Suspect]
     Active Substance: METHYLPREDNISOLONE SODIUM SUCCINATE
  447. METHYLPREDNISOLONE SODIUM SUCCINATE [Suspect]
     Active Substance: METHYLPREDNISOLONE SODIUM SUCCINATE
  448. METHYLPREDNISOLONE SODIUM PHOSPHATE [Suspect]
     Active Substance: METHYLPREDNISOLONE SODIUM PHOSPHATE
     Indication: Product used for unknown indication
     Dosage: UNK, ROA; UNKNOWN
  449. METHYLPREDNISOLONE SODIUM PHOSPHATE [Suspect]
     Active Substance: METHYLPREDNISOLONE SODIUM PHOSPHATE
     Dosage: UNK
  450. METHYLPREDNISOLONE SODIUM PHOSPHATE [Suspect]
     Active Substance: METHYLPREDNISOLONE SODIUM PHOSPHATE
  451. HERBALS\PLANTAGO OVATA LEAF [Suspect]
     Active Substance: HERBALS\PLANTAGO OVATA LEAF
     Indication: Product used for unknown indication
     Dosage: UNK, ROA; UNKNOWN
  452. HERBALS\PLANTAGO OVATA LEAF [Suspect]
     Active Substance: HERBALS\PLANTAGO OVATA LEAF
     Dosage: UNK
  453. HERBALS\PLANTAGO OVATA LEAF [Suspect]
     Active Substance: HERBALS\PLANTAGO OVATA LEAF
     Dosage: UNK
  454. HERBALS\PLANTAGO OVATA LEAF [Suspect]
     Active Substance: HERBALS\PLANTAGO OVATA LEAF
  455. HERBALS\PLANTAGO OVATA LEAF [Suspect]
     Active Substance: HERBALS\PLANTAGO OVATA LEAF
     Dosage: UNK
  456. PROGESTERONE [Suspect]
     Active Substance: PROGESTERONE
     Indication: Product used for unknown indication
     Dosage: UNK, ROA; UNKNOWN
  457. PROGESTERONE [Suspect]
     Active Substance: PROGESTERONE
     Dosage: UNK
  458. PROGESTERONE [Suspect]
     Active Substance: PROGESTERONE
     Dosage: UNK
  459. PROGESTERONE [Suspect]
     Active Substance: PROGESTERONE
     Dosage: UNK
  460. PROGESTERONE [Suspect]
     Active Substance: PROGESTERONE
     Dosage: UNK, ROA: INTRAMUSCULAR USE
  461. PROGESTERONE [Suspect]
     Active Substance: PROGESTERONE
     Dosage: UNK
  462. PROGESTERONE [Suspect]
     Active Substance: PROGESTERONE
     Dosage: UNK
  463. PROGESTERONE [Suspect]
     Active Substance: PROGESTERONE
     Dosage: UNK
  464. PROGESTERONE [Suspect]
     Active Substance: PROGESTERONE
     Dosage: UNK
  465. PROGESTERONE [Suspect]
     Active Substance: PROGESTERONE
     Dosage: UNK
  466. PROGESTERONE [Suspect]
     Active Substance: PROGESTERONE
     Dosage: UNK
  467. PROGESTERONE [Suspect]
     Active Substance: PROGESTERONE
     Dosage: ROA: INTRAMUSCULAR USE
  468. PROGESTERONE [Suspect]
     Active Substance: PROGESTERONE
     Dosage: UNK
  469. PROGESTERONE [Suspect]
     Active Substance: PROGESTERONE
     Dosage: UNK
  470. PROGESTERONE [Suspect]
     Active Substance: PROGESTERONE
     Dosage: UNK, ROA: INTRAMUSCULAR USE
  471. PROGESTERONE [Suspect]
     Active Substance: PROGESTERONE
     Dosage: UNK
  472. PROGESTERONE [Suspect]
     Active Substance: PROGESTERONE
     Dosage: UNK
  473. PROGESTERONE [Suspect]
     Active Substance: PROGESTERONE
     Dosage: UNK
  474. PROGESTERONE [Suspect]
     Active Substance: PROGESTERONE
     Dosage: UNK, ROA: INTRAMUSCULAR USE
  475. PROGESTERONE [Suspect]
     Active Substance: PROGESTERONE
     Dosage: UNK
  476. PROGESTERONE [Suspect]
     Active Substance: PROGESTERONE
     Dosage: UNK, ROA: INTRAMUSCULAR USE
  477. PROGESTERONE [Suspect]
     Active Substance: PROGESTERONE
     Dosage: ROA: INTRAMUSCULAR USE
  478. PROGESTERONE [Suspect]
     Active Substance: PROGESTERONE
     Dosage: UNK, ROA: INTRAMUSCULAR USE
  479. PROGESTERONE [Suspect]
     Active Substance: PROGESTERONE
     Dosage: UNK
  480. PROGESTERONE [Suspect]
     Active Substance: PROGESTERONE
     Dosage: UNK
  481. PROGESTERONE [Suspect]
     Active Substance: PROGESTERONE
     Dosage: UNK
  482. PROGESTERONE [Suspect]
     Active Substance: PROGESTERONE
     Dosage: ROA: INTRAMUSCULAR USE
  483. PROGESTERONE [Suspect]
     Active Substance: PROGESTERONE
     Dosage: ROA: INTRAMUSCULAR USE
  484. PROGESTERONE [Suspect]
     Active Substance: PROGESTERONE
     Dosage: UNK
  485. PROGESTERONE [Suspect]
     Active Substance: PROGESTERONE
     Dosage: UNK
  486. PROGESTERONE [Suspect]
     Active Substance: PROGESTERONE
     Indication: Product used for unknown indication
     Dosage: UNK, ROA; UNKNOWN
  487. PROGESTERONE [Suspect]
     Active Substance: PROGESTERONE
  488. PROGESTERONE [Suspect]
     Active Substance: PROGESTERONE
     Dosage: UNK, ROA; UNKNOWN
  489. PROGESTERONE [Suspect]
     Active Substance: PROGESTERONE
     Dosage: UNK, ROA; UNKNOWN
  490. PROGESTERONE [Suspect]
     Active Substance: PROGESTERONE
     Dosage: UNK, ROA: INTRAMUSCULAR USE
  491. PROGESTERONE [Suspect]
     Active Substance: PROGESTERONE
     Dosage: UNK, ROA: UNKNOWN
  492. PROGESTERONE [Suspect]
     Active Substance: PROGESTERONE
     Dosage: UNK, ROA: UNKNOWN
  493. PROGESTERONE [Suspect]
     Active Substance: PROGESTERONE
     Indication: Product used for unknown indication
     Dosage: UNK
  494. PROGESTERONE [Suspect]
     Active Substance: PROGESTERONE
     Indication: Product used for unknown indication
     Dosage: DF: SOLUTION FOR INJECTION AND ROUTE: UNKNOWN
  495. PROGESTERONE [Suspect]
     Active Substance: PROGESTERONE
     Dosage: ROA: INTRAMUSCULAR, DF: SOLUTION FOR INJECTION
  496. PROGESTERONE [Suspect]
     Active Substance: PROGESTERONE
     Dosage: ROA: INTRAMUSCULAR, DF: SOLUTION FOR INJECTION
  497. PSYLLIUM HUSK [Suspect]
     Active Substance: PSYLLIUM HUSK
     Indication: Product used for unknown indication
     Dosage: UNK, ROA: UNKNOWN
  498. PSYLLIUM HUSK [Suspect]
     Active Substance: PSYLLIUM HUSK
     Dosage: UNK
  499. PSYLLIUM HUSK [Suspect]
     Active Substance: PSYLLIUM HUSK
  500. RANITIDINE HYDROCHLORIDE [Suspect]
     Active Substance: RANITIDINE HYDROCHLORIDE
     Indication: Product used for unknown indication
     Dosage: 20 MG, QD, ROA: UNKNOWN
  501. RANITIDINE HYDROCHLORIDE [Suspect]
     Active Substance: RANITIDINE HYDROCHLORIDE
     Dosage: UNK, ROA: UNKNOWN
  502. RANITIDINE HYDROCHLORIDE [Suspect]
     Active Substance: RANITIDINE HYDROCHLORIDE
     Dosage: UNK
  503. RANITIDINE HYDROCHLORIDE [Suspect]
     Active Substance: RANITIDINE HYDROCHLORIDE
     Dosage: UNK, ROA: UNKNOWN
  504. RANITIDINE HYDROCHLORIDE [Suspect]
     Active Substance: RANITIDINE HYDROCHLORIDE
     Dosage: UNK
  505. RANITIDINE HYDROCHLORIDE [Suspect]
     Active Substance: RANITIDINE HYDROCHLORIDE
     Dosage: UNK, ROA: UNKNOWN
  506. RANITIDINE HYDROCHLORIDE [Suspect]
     Active Substance: RANITIDINE HYDROCHLORIDE
  507. RANITIDINE HYDROCHLORIDE [Suspect]
     Active Substance: RANITIDINE HYDROCHLORIDE
     Dosage: 2 MG, QD, ROA: UNKNOWN
  508. RANITIDINE HYDROCHLORIDE [Suspect]
     Active Substance: RANITIDINE HYDROCHLORIDE
     Dosage: 2 MG, QD, ROA: UNKNOWN
  509. RANITIDINE HYDROCHLORIDE [Suspect]
     Active Substance: RANITIDINE HYDROCHLORIDE
     Dosage: UNK, ROA: UNKNOWN
  510. RANITIDINE HYDROCHLORIDE [Suspect]
     Active Substance: RANITIDINE HYDROCHLORIDE
     Dosage: 20 MG, QD, ROA: UNKNOWN
  511. RANITIDINE HYDROCHLORIDE [Suspect]
     Active Substance: RANITIDINE HYDROCHLORIDE
     Dosage: 20 MG, QD, ROA: UNKNOWN
  512. REMICADE [Suspect]
     Active Substance: INFLIXIMAB
     Indication: Product used for unknown indication
     Dosage: UNK, POWDER AND SOLUTION FOR SOLUTION FOR INJECTION, ROA: INTRAVENOUS USE
  513. REMICADE [Suspect]
     Active Substance: INFLIXIMAB
     Dosage: UNK (POWDER FOR SOLUTION INTRAVENOUS)
  514. REMICADE [Suspect]
     Active Substance: INFLIXIMAB
     Dosage: UNK (POWDER FOR SOLUTION INTRAVENOUS)
  515. REMICADE [Suspect]
     Active Substance: INFLIXIMAB
     Dosage: DOSE FORM: POWDER AND SOLUTION FOR SOLUTION FOR INJECTION, ROA: INTRAVENOUS (NOT OTHERWISE SPECIFIED)
  516. REMICADE [Suspect]
     Active Substance: INFLIXIMAB
     Dosage: DOSE FORM: POWDER AND SOLUTION FOR SOLUTION FOR INJECTION, ROA: INTRAVENOUS (NOT OTHERWISE SPECIFIED)
  517. REMICADE [Suspect]
     Active Substance: INFLIXIMAB
     Dosage: DOSE FORM: POWDER AND SOLUTION FOR SOLUTION FOR INJECTION, ROA: INTRAVENOUS (NOT OTHERWISE SPECIFIED)
  518. RESTORIL [Suspect]
     Active Substance: TEMAZEPAM
     Indication: Product used for unknown indication
     Dosage: UNK, ROA: UNKNOWN
  519. RESTORIL [Suspect]
     Active Substance: TEMAZEPAM
     Dosage: UNK
  520. RESTORIL [Suspect]
     Active Substance: TEMAZEPAM
     Dosage: UNK, ROA: UNKNOWN
  521. RESTORIL [Suspect]
     Active Substance: TEMAZEPAM
  522. RESTORIL [Suspect]
     Active Substance: TEMAZEPAM
     Dosage: UNK
  523. RESTORIL [Suspect]
     Active Substance: TEMAZEPAM
  524. ALBUTEROL [Suspect]
     Active Substance: ALBUTEROL
     Indication: Product used for unknown indication
     Dosage: UNK ROA: UNKNOWN
  525. ALBUTEROL [Suspect]
     Active Substance: ALBUTEROL
     Dosage: UNK
  526. ALBUTEROL [Suspect]
     Active Substance: ALBUTEROL
     Dosage: UNK, ROA: UNKNOWN
  527. ALBUTEROL [Suspect]
     Active Substance: ALBUTEROL
  528. ALBUTEROL [Suspect]
     Active Substance: ALBUTEROL
     Dosage: UNK, ROA: UNKNOWN
  529. ALBUTEROL [Suspect]
     Active Substance: ALBUTEROL
     Dosage: UNK
  530. ALBUTEROL [Suspect]
     Active Substance: ALBUTEROL
     Dosage: UNK, ROA: UNKNOWN
  531. ALBUTEROL [Suspect]
     Active Substance: ALBUTEROL
  532. ALBUTEROL [Suspect]
     Active Substance: ALBUTEROL
     Dosage: UNK
  533. ALBUTEROL [Suspect]
     Active Substance: ALBUTEROL
  534. ALBUTEROL [Suspect]
     Active Substance: ALBUTEROL
     Dosage: UNK
  535. ALBUTEROL [Suspect]
     Active Substance: ALBUTEROL
  536. VENTOLIN [Suspect]
     Active Substance: ALBUTEROL SULFATE
     Indication: Product used for unknown indication
     Dosage: UNK, ROA: UNKNOWN
  537. VENTOLIN [Suspect]
     Active Substance: ALBUTEROL SULFATE
     Dosage: UNK
  538. VENTOLIN [Suspect]
     Active Substance: ALBUTEROL SULFATE
     Dosage: UNK, ROA: UNKNOWN
  539. VENTOLIN [Suspect]
     Active Substance: ALBUTEROL SULFATE
  540. VENTOLIN [Suspect]
     Active Substance: ALBUTEROL SULFATE
     Dosage: UNK
  541. VENTOLIN [Suspect]
     Active Substance: ALBUTEROL SULFATE
  542. WELLBUTRIN [Suspect]
     Active Substance: BUPROPION HYDROCHLORIDE
     Indication: Product used for unknown indication
     Dosage: UNK, ROA: UNKNOWN
  543. WELLBUTRIN [Suspect]
     Active Substance: BUPROPION HYDROCHLORIDE
     Dosage: UNK, DOSE FORM: PROLONGED-RELEASE TABLET
  544. WELLBUTRIN [Suspect]
     Active Substance: BUPROPION HYDROCHLORIDE
     Dosage: UNK, ROA: UNKNOWN
  545. WELLBUTRIN [Suspect]
     Active Substance: BUPROPION HYDROCHLORIDE
     Dosage: UNK, DOSE FORM: PROLONGED-RELEASE TABLET
  546. WELLBUTRIN [Suspect]
     Active Substance: BUPROPION HYDROCHLORIDE
     Dosage: UNK (TABLET (EXTENDED- RELEASE), ROA: UNKNOWN
  547. WELLBUTRIN [Suspect]
     Active Substance: BUPROPION HYDROCHLORIDE
     Dosage: UNK (TABLET (EXTENDED- RELEASE), DOSE FORM: PROLONGED-RELEASE TABLET
  548. WELLBUTRIN [Suspect]
     Active Substance: BUPROPION HYDROCHLORIDE
     Dosage: UNK, ROA: UNKNOWN
  549. WELLBUTRIN [Suspect]
     Active Substance: BUPROPION HYDROCHLORIDE
     Dosage: UNK, DOSE FORM: PROLONGED-RELEASE TABLET
  550. WELLBUTRIN [Suspect]
     Active Substance: BUPROPION HYDROCHLORIDE
     Dosage: 150 MG, DOSE FORM: PROLONGED-RELEASE TABLET, ROA: UNKNOWN
  551. WELLBUTRIN [Suspect]
     Active Substance: BUPROPION HYDROCHLORIDE
     Dosage: 150 MG, DOSE FORM: PROLONGED-RELEASE TABLET, ROA: UNKNOWN
  552. WELLBUTRIN [Suspect]
     Active Substance: BUPROPION HYDROCHLORIDE
     Dosage: 150 MG, PROLONGED-RELEASE TABLET, ROA: UNKNOWN
  553. WELLBUTRIN [Suspect]
     Active Substance: BUPROPION HYDROCHLORIDE
     Dosage: UNK, ROA: UNKNOWN
  554. WELLBUTRIN [Suspect]
     Active Substance: BUPROPION HYDROCHLORIDE
     Dosage: UNK, PROLONGED-RELEASE TABLET
  555. ZOPICLONE [Suspect]
     Active Substance: ZOPICLONE
     Indication: Product used for unknown indication
     Dosage: UNK, ROA: UNKNOWN
  556. ZOPICLONE [Suspect]
     Active Substance: ZOPICLONE
     Dosage: UNK
  557. ZOPICLONE [Suspect]
     Active Substance: ZOPICLONE
     Dosage: UNK, ROA: UNKNOWN
  558. ZOPICLONE [Suspect]
     Active Substance: ZOPICLONE
  559. ZOPICLONE [Suspect]
     Active Substance: ZOPICLONE
     Dosage: UNK, ROA: UNKNOWN
  560. ZOPICLONE [Suspect]
     Active Substance: ZOPICLONE
     Dosage: UNK
  561. ZOPICLONE [Suspect]
     Active Substance: ZOPICLONE
     Dosage: UNK
  562. SENNA LEAF [Suspect]
     Active Substance: SENNA LEAF
     Indication: Product used for unknown indication
     Dosage: UNK (DROPS (UNSPECIFIED), ROA: UNKNOWN
  563. SENNA LEAF [Suspect]
     Active Substance: SENNA LEAF
     Dosage: UNK (DROPS (UNSPECIFIED), DOSE FORM: ORAL DROPS
  564. SENNA LEAF [Suspect]
     Active Substance: SENNA LEAF
     Dosage: UNK (DROPS (UNSPECIFIED), ROA: UNKNOWN
  565. SENNA LEAF [Suspect]
     Active Substance: SENNA LEAF
     Dosage: DROPS
  566. SENNA LEAF [Suspect]
     Active Substance: SENNA LEAF
     Dosage: UNK (DROPS (UNSPECIFIED)
     Route: 048
  567. SENNA LEAF [Suspect]
     Active Substance: SENNA LEAF
     Dosage: UNK (DROPS (UNSPECIFIED), DOSE FORM: ORAL DROPS
  568. SENNA LEAF [Suspect]
     Active Substance: SENNA LEAF
     Dosage: UNK (DROPS (UNSPECIFIED), ROA: UNKNOWN
  569. SENNA LEAF [Suspect]
     Active Substance: SENNA LEAF
     Dosage: DROPS
  570. SENNA LEAF [Suspect]
     Active Substance: SENNA LEAF
     Dosage: UNK (DROPS (UNSPECIFIED), ROA: UNKNOWN
  571. SENNA LEAF [Suspect]
     Active Substance: SENNA LEAF
     Dosage: UNK (DROPS (UNSPECIFIED), DOSE FORM: ORAL DROPS
  572. SENNA LEAF [Suspect]
     Active Substance: SENNA LEAF
     Dosage: UNK (DROPS (UNSPECIFIED)
     Route: 048
  573. SENNA LEAF [Suspect]
     Active Substance: SENNA LEAF
     Dosage: DROPS
  574. SENNA LEAF [Suspect]
     Active Substance: SENNA LEAF
     Dosage: UNK (DROPS (UNSPECIFIED), DOSE FORM: ORAL DROPS
  575. SENNA LEAF [Suspect]
     Active Substance: SENNA LEAF
     Dosage: DROPS
  576. SENNA LEAF [Suspect]
     Active Substance: SENNA LEAF
     Dosage: UNK (DROPS (UNSPECIFIED), DOSE FORM: ORAL DROPS
  577. SENNA LEAF [Suspect]
     Active Substance: SENNA LEAF
     Dosage: DROPS
  578. SENNA LEAF [Suspect]
     Active Substance: SENNA LEAF
     Dosage: UNK (DROPS (UNSPECIFIED), DOSE FORM: ORAL DROPS
  579. SENNA LEAF [Suspect]
     Active Substance: SENNA LEAF
     Dosage: DROPS
  580. SENNOSIDES A AND B [Suspect]
     Active Substance: SENNOSIDES A AND B
     Indication: Product used for unknown indication
     Dosage: UNK
  581. SENNOSIDES A AND B [Suspect]
     Active Substance: SENNOSIDES A AND B
  582. SENNOSIDES A AND B [Suspect]
     Active Substance: SENNOSIDES A AND B
     Dosage: UNK
  583. SENNOSIDES A AND B [Suspect]
     Active Substance: SENNOSIDES A AND B
  584. TEMAZEPAM [Suspect]
     Active Substance: TEMAZEPAM
     Indication: Product used for unknown indication
     Dosage: UNK, ROA: UNKNOWN
  585. TEMAZEPAM [Suspect]
     Active Substance: TEMAZEPAM
     Dosage: UNK
  586. TEMAZEPAM [Suspect]
     Active Substance: TEMAZEPAM
  587. TOCILIZUMAB [Suspect]
     Active Substance: TOCILIZUMAB
     Indication: Rheumatoid arthritis
     Dosage: UNK, ROA: SUBCUTANEOUS USE
  588. TOCILIZUMAB [Suspect]
     Active Substance: TOCILIZUMAB
     Dosage: UNK
  589. TOCILIZUMAB [Suspect]
     Active Substance: TOCILIZUMAB
     Dosage: UNK, ROA: UNKNOWN
  590. TOCILIZUMAB [Suspect]
     Active Substance: TOCILIZUMAB
  591. TOCILIZUMAB [Suspect]
     Active Substance: TOCILIZUMAB
     Dosage: UNK
  592. TOCILIZUMAB [Suspect]
     Active Substance: TOCILIZUMAB
  593. TOCILIZUMAB [Suspect]
     Active Substance: TOCILIZUMAB
     Dosage: 500MG 5QD, ROA: SUBCUTANEOUS USE
  594. TYLENOL [Suspect]
     Active Substance: ACETAMINOPHEN
     Indication: Product used for unknown indication
     Dosage: UNK, ROA: UNKNOWN
  595. TYLENOL [Suspect]
     Active Substance: ACETAMINOPHEN
     Dosage: UNK
  596. TYLENOL [Suspect]
     Active Substance: ACETAMINOPHEN
  597. ACTEMRA [Suspect]
     Active Substance: TOCILIZUMAB
     Indication: Rheumatoid arthritis
     Dosage: 500 MG, DOSE FORM: SOLUTION FOR INJECTION IN PRE-FILLED SYRINGE, ROA: SUBCUTANEOUS
  598. ACTEMRA [Suspect]
     Active Substance: TOCILIZUMAB
     Dosage: 1000 MG, DOSE FORM: SOLUTION FOR INJECTION IN PRE-FILLED SYRINGE, ROA: SUBCUTANEOUS
  599. ACTEMRA [Suspect]
     Active Substance: TOCILIZUMAB
     Dosage: UNK, DOSE FORM: SOLUTION FOR INJECTION IN PRE-FILLED SYRINGE, ROA: UNKNOWN
  600. ACTEMRA [Suspect]
     Active Substance: TOCILIZUMAB
     Dosage: UNK, DOSE FORM: SOLUTION FOR INJECTION IN PRE-FILLED SYRINGE
  601. ACTEMRA [Suspect]
     Active Substance: TOCILIZUMAB
     Dosage: 500 MG, DOSE FORM: SOLUTION FOR INJECTION IN PRE-FILLED SYRINGE, ROA: SUBCUTANEOUS
  602. ACTEMRA [Suspect]
     Active Substance: TOCILIZUMAB
     Dosage: DOSE FORM: SOLUTION FOR INJECTION IN PRE-FILLED SYRINGE
  603. ACTEMRA [Suspect]
     Active Substance: TOCILIZUMAB
     Dosage: QD, DOSE FORM: SOLUTION FOR INJECTION IN PRE-FILLED SYRINGE, ROA: SUBCUTANEOUS
  604. ACTEMRA [Suspect]
     Active Substance: TOCILIZUMAB
     Dosage: QD, DOSE FORM: SOLUTION FOR INJECTION IN PRE-FILLED SYRINGE, ROA: SUBCUTANEOUS
  605. ACTEMRA [Suspect]
     Active Substance: TOCILIZUMAB
     Dosage: QD, DOSE FORM: SOLUTION FOR INJECTION IN PRE-FILLED SYRINGE, ROA: SUBCUTANEOUS
  606. ACTEMRA [Suspect]
     Active Substance: TOCILIZUMAB
     Dosage: QD, DOSE FORM: SOLUTION FOR INJECTION IN PRE-FILLED SYRINGE, ROA: UNKNOWN
  607. ACTEMRA [Suspect]
     Active Substance: TOCILIZUMAB
     Dosage: QD, DOSE FORM: SOLUTION FOR INJECTION IN PRE-FILLED SYRINGE, ROA: SUBCUTANEOUS
  608. ACTEMRA [Suspect]
     Active Substance: TOCILIZUMAB
     Dosage: QD, DOSE FORM: SOLUTION FOR INJECTION IN PRE-FILLED SYRINGE, ROA: SUBCUTANEOUS
  609. ACTEMRA [Suspect]
     Active Substance: TOCILIZUMAB
     Dosage: QD, DOSE FORM: SOLUTION FOR INJECTION IN PRE-FILLED SYRINGE, ROA: SUBCUTANEOUS
  610. ACTEMRA [Suspect]
     Active Substance: TOCILIZUMAB
     Dosage: QD, DOSE FORM: SOLUTION FOR INJECTION IN PRE-FILLED SYRINGE, ROA: SUBCUTANEOUS
  611. ACTEMRA [Suspect]
     Active Substance: TOCILIZUMAB
     Dosage: 50 MG, DOSE FORM: SOLUTION FOR INJECTION IN PRE-FILLED SYRINGE, ROA: SUBCUTANEOUS
  612. ACTEMRA [Suspect]
     Active Substance: TOCILIZUMAB
     Dosage: 1000 MG, QD, DOSE FORM: SOLUTION FOR INJECTION IN PRE-FILLED SYRINGE, ROA: SUBCUTANEOUS
  613. ACTEMRA [Suspect]
     Active Substance: TOCILIZUMAB
     Dosage: UNK, DOSE FORM: SOLUTION FOR INJECTION IN PRE-FILLED SYRINGE
  614. ACTEMRA [Suspect]
     Active Substance: TOCILIZUMAB
     Dosage: 50 MG, DOSE FORM: SOLUTION FOR INJECTION IN PRE-FILLED SYRINGE, ROA: SUBCUTANEOUS
  615. ACTEMRA [Suspect]
     Active Substance: TOCILIZUMAB
     Dosage: 500 MG, QD, DOSE FORM: SOLUTION FOR INJECTION IN PRE-FILLED SYRINGE, ROA: SUBCUTANEOUS
  616. CETIRIZINE HYDROCHLORIDE [Suspect]
     Active Substance: CETIRIZINE HYDROCHLORIDE
     Indication: Product used for unknown indication
     Dosage: QD, ROA: UNKNOWN
  617. CETIRIZINE HYDROCHLORIDE [Suspect]
     Active Substance: CETIRIZINE HYDROCHLORIDE
     Dosage: QD, ROA: UNKNOWN
  618. CETIRIZINE HYDROCHLORIDE [Suspect]
     Active Substance: CETIRIZINE HYDROCHLORIDE
     Dosage: QD, ROA: UNKNOWN
  619. CETIRIZINE HYDROCHLORIDE [Suspect]
     Active Substance: CETIRIZINE HYDROCHLORIDE
     Dosage: QD, ROA: UNKNOWN
  620. CETIRIZINE HYDROCHLORIDE [Suspect]
     Active Substance: CETIRIZINE HYDROCHLORIDE
     Dosage: QD, ROA: UNKNOWN
  621. CETIRIZINE HYDROCHLORIDE [Suspect]
     Active Substance: CETIRIZINE HYDROCHLORIDE
     Dosage: QD, ROA: UNKNOWN
  622. CETIRIZINE HYDROCHLORIDE [Suspect]
     Active Substance: CETIRIZINE HYDROCHLORIDE
     Dosage: QD, ROA: UNKNOWN
  623. CETIRIZINE HYDROCHLORIDE [Suspect]
     Active Substance: CETIRIZINE HYDROCHLORIDE
     Dosage: QD, ROA: UNKNOWN
  624. CETIRIZINE HYDROCHLORIDE [Suspect]
     Active Substance: CETIRIZINE HYDROCHLORIDE
     Dosage: 20 MG, ROA: UNKNOWN
  625. SINGULAIR [Suspect]
     Active Substance: MONTELUKAST SODIUM
     Indication: Product used for unknown indication
     Dosage: UNK, ROA: UNKNOWN
  626. SINGULAIR [Suspect]
     Active Substance: MONTELUKAST SODIUM
     Dosage: UNK
  627. SINGULAIR [Suspect]
     Active Substance: MONTELUKAST SODIUM
     Dosage: ROA: UNKNOWN
  628. PANTOPRAZOLE MAGNESIUM [Suspect]
     Active Substance: PANTOPRAZOLE MAGNESIUM
     Indication: Product used for unknown indication
     Dosage: UNK, ROA: UNKNOWN
  629. PANTOPRAZOLE MAGNESIUM [Suspect]
     Active Substance: PANTOPRAZOLE MAGNESIUM
     Dosage: UNK, PROLONGED-RELEASE TABLET
  630. PANTOPRAZOLE MAGNESIUM [Suspect]
     Active Substance: PANTOPRAZOLE MAGNESIUM
     Dosage: UNK (TABLET (ENTERIC- COATED)), ROA: UNKNOWN
  631. PANTOPRAZOLE MAGNESIUM [Suspect]
     Active Substance: PANTOPRAZOLE MAGNESIUM
     Dosage: UNK (ENTERIC- COATED)
  632. PANTOPRAZOLE MAGNESIUM [Suspect]
     Active Substance: PANTOPRAZOLE MAGNESIUM
     Dosage: UNK  (TABLET (ENTERIC- COATED))
  633. PANTOPRAZOLE MAGNESIUM [Suspect]
     Active Substance: PANTOPRAZOLE MAGNESIUM
     Dosage: ENTERIC-COATED TABLET
  634. PANTOPRAZOLE MAGNESIUM [Suspect]
     Active Substance: PANTOPRAZOLE MAGNESIUM
     Dosage: UNK
  635. PANTOPRAZOLE MAGNESIUM [Suspect]
     Active Substance: PANTOPRAZOLE MAGNESIUM
     Dosage: UNK
  636. DIETARY SUPPLEMENT [Suspect]
     Active Substance: DIETARY SUPPLEMENT
     Indication: Product used for unknown indication
     Dosage: UNK, ROA: UNKNOWN
  637. DIETARY SUPPLEMENT [Suspect]
     Active Substance: DIETARY SUPPLEMENT
     Dosage: UNK
  638. DIETARY SUPPLEMENT [Suspect]
     Active Substance: DIETARY SUPPLEMENT
     Dosage: UNK, ROA: UNKNOWN
  639. DIETARY SUPPLEMENT [Suspect]
     Active Substance: DIETARY SUPPLEMENT
     Dosage: UNK
  640. VENLAFAXINE [Suspect]
     Active Substance: VENLAFAXINE HYDROCHLORIDE
     Indication: Product used for unknown indication
     Dosage: UNK (MYLAN-VENLAFAXINE XR) (CAPSULE, EXTENDED RELEASE), ROA: UNKNOWN
  641. VENLAFAXINE [Suspect]
     Active Substance: VENLAFAXINE HYDROCHLORIDE
     Dosage: UNK (MYLAN-VENLAFAXINE XR) (CAPSULE, EXTENDED RELEASE)
  642. CRINONE [Suspect]
     Active Substance: PROGESTERONE
     Indication: Product used for unknown indication
     Dosage: UNK, SOLUTION FOR INJECTION, ROA: INTRAMUSCULAR USE
  643. CRINONE [Suspect]
     Active Substance: PROGESTERONE
     Dosage: SOLUTION FOR INJECTION, ROA: INTRAMUSCULAR USE
  644. NORTRIPTYLINE [Suspect]
     Active Substance: NORTRIPTYLINE
     Indication: Product used for unknown indication
     Dosage: 10 MG, ROA: UNKNOWN
  645. NORTRIPTYLINE [Suspect]
     Active Substance: NORTRIPTYLINE
     Dosage: 10 MG, ROA: UNKNOWN
  646. NORTRIPTYLINE [Suspect]
     Active Substance: NORTRIPTYLINE
     Dosage: 10 MG, ROA: UNKNOWN
  647. DIPHENHYDRAMINE [Suspect]
     Active Substance: DIPHENHYDRAMINE
     Indication: Product used for unknown indication
     Dosage: UNK, ROA: UNKNOWN
  648. DIPHENHYDRAMINE [Suspect]
     Active Substance: DIPHENHYDRAMINE
     Dosage: DOSE FORM: OINTMENT
  649. DIPHENHYDRAMINE [Suspect]
     Active Substance: DIPHENHYDRAMINE
     Dosage: 75 MG, QD, DOSE FORM: OINTMENT, ROA: UNKNOWN
  650. DIPHENHYDRAMINE [Suspect]
     Active Substance: DIPHENHYDRAMINE
     Dosage: 75 MG, QD, DOSE FORM: OINTMENT, ROA: UNKNOWN
  651. DIPHENHYDRAMINE [Suspect]
     Active Substance: DIPHENHYDRAMINE
     Dosage: 75 MG, QD, DOSE FORM: OINTMENT, ROA: UNKNOWN
  652. DIPHENHYDRAMINE [Suspect]
     Active Substance: DIPHENHYDRAMINE
     Dosage: 75 MG, QD, DOSE FORM: OINTMENT, ROA: UNKNOWN
  653. DIPHENHYDRAMINE [Suspect]
     Active Substance: DIPHENHYDRAMINE
     Dosage: 75 MG, DOSE FORM: OINTMENT, ROA: UNKNOWN
  654. DIPHENHYDRAMINE [Suspect]
     Active Substance: DIPHENHYDRAMINE
     Dosage: 75 MG, QD, DOSE FORM: OINTMENT
  655. DIPHENHYDRAMINE [Suspect]
     Active Substance: DIPHENHYDRAMINE
     Dosage: 75 MG, QD, DOSE FORM: OINTMENT
  656. DIPHENHYDRAMINE [Suspect]
     Active Substance: DIPHENHYDRAMINE
     Dosage: 75 MG, DOSE FORM: OINTMENT
  657. CETIRIZINE HYDROCHLORIDE [Suspect]
     Active Substance: CETIRIZINE HYDROCHLORIDE
     Indication: Product used for unknown indication
     Dosage: 20 MG, QD, ROA: UNKNOWN
  658. CETIRIZINE HYDROCHLORIDE [Suspect]
     Active Substance: CETIRIZINE HYDROCHLORIDE
     Dosage: 20 MG, QD, ROA: UNKNOWN
  659. VITAMIN C [Suspect]
     Active Substance: ASCORBIC ACID
     Indication: Product used for unknown indication
     Dosage: UNK
  660. VITAMIN C [Suspect]
     Active Substance: ASCORBIC ACID
     Dosage: UNK
  661. DIETARY SUPPLEMENT [Suspect]
     Active Substance: DIETARY SUPPLEMENT
     Indication: Product used for unknown indication
     Dosage: ROUTE: UNKNOWN
  662. DIETARY SUPPLEMENT [Suspect]
     Active Substance: DIETARY SUPPLEMENT
     Indication: Product used for unknown indication
  663. HUMIRA [Suspect]
     Active Substance: ADALIMUMAB
     Indication: Product used for unknown indication
     Dosage: ROA: SUBCUTANEOUS
  664. HYDROMORPHONE HYDROCHLORIDE [Suspect]
     Active Substance: HYDROMORPHONE HYDROCHLORIDE
     Indication: Product used for unknown indication
     Dosage: ROUTE: UNKNOWN
  665. DICLOFENAC SODIUM [Suspect]
     Active Substance: DICLOFENAC SODIUM
     Indication: Product used for unknown indication
     Dosage: ROUTE: UNKNOWN
  666. SENOKOT [Suspect]
     Active Substance: SENNOSIDES
     Indication: Product used for unknown indication
     Dosage: UNK, ROA: UNKNOWN
  667. SENOKOT [Suspect]
     Active Substance: SENNOSIDES
  668. SENOKOT [Suspect]
     Active Substance: SENNOSIDES
     Dosage: UNK, ROA: UNKNOWN
  669. SENOKOT [Suspect]
     Active Substance: SENNOSIDES
  670. METHYLPREDNISOLONE [Suspect]
     Active Substance: METHYLPREDNISOLONE
     Indication: Product used for unknown indication
     Dosage: ROUTE: UNKNOWN
  671. METHYLPREDNISOLONE [Suspect]
     Active Substance: METHYLPREDNISOLONE
     Dosage: UNKNOWN ROUTE
  672. RANITIDINE HYDROCHLORIDE [Suspect]
     Active Substance: RANITIDINE HYDROCHLORIDE
     Indication: Product used for unknown indication
     Dosage: ROUTE: UNKNOWN
  673. RANITIDINE HYDROCHLORIDE [Suspect]
     Active Substance: RANITIDINE HYDROCHLORIDE
     Dosage: ROUTE: UNKNOWN
  674. WELLBUTRIN [Suspect]
     Active Substance: BUPROPION HYDROCHLORIDE
     Indication: Product used for unknown indication
  675. VITAMIN C [Suspect]
     Active Substance: ASCORBIC ACID
     Indication: Product used for unknown indication
  676. DOLUTEGRAVIR SODIUM [Concomitant]
     Active Substance: DOLUTEGRAVIR SODIUM
     Indication: Product used for unknown indication
     Dosage: UNK, ROA: UNKNOWN
  677. DOLUTEGRAVIR SODIUM [Concomitant]
     Active Substance: DOLUTEGRAVIR SODIUM
     Dosage: UNK
  678. DOLUTEGRAVIR SODIUM [Concomitant]
     Active Substance: DOLUTEGRAVIR SODIUM

REACTIONS (9)
  - Thrombocytopenia [Not Recovered/Not Resolved]
  - Infection [Not Recovered/Not Resolved]
  - Asthma [Not Recovered/Not Resolved]
  - Exposure during pregnancy [Not Recovered/Not Resolved]
  - Rash [Not Recovered/Not Resolved]
  - Rash erythematous [Not Recovered/Not Resolved]
  - Pyrexia [Not Recovered/Not Resolved]
  - Rheumatoid arthritis [Not Recovered/Not Resolved]
  - Upper respiratory tract infection [Not Recovered/Not Resolved]
